FAERS Safety Report 25085607 (Version 3)
Quarter: 2025Q2

REPORT INFORMATION
  Report Type: Spontaneous
  Country: CA (occurrence: CA)
  Receive Date: 20250317
  Receipt Date: 20250611
  Transmission Date: 20250717
  Serious: Yes (Death, Life-Threatening, Hospitalization, Disabling, Congenital Anomaly, Other)
  Sender: GALDERMA
  Company Number: CA-GALDERMA-CA2025003430

PATIENT

DRUGS (806)
  1. DOXYCYCLINE [Suspect]
     Active Substance: DOXYCYCLINE
     Indication: Rheumatoid arthritis
  2. DOXYCYCLINE [Suspect]
     Active Substance: DOXYCYCLINE
     Indication: Product used for unknown indication
  3. ACETAMINOPHEN [Concomitant]
     Active Substance: ACETAMINOPHEN
     Indication: Rheumatoid arthritis
  4. ACETAMINOPHEN [Concomitant]
     Active Substance: ACETAMINOPHEN
     Indication: Product used for unknown indication
  5. ACETAMINOPHEN [Concomitant]
     Active Substance: ACETAMINOPHEN
     Indication: Crohn^s disease
  6. ACETAMINOPHEN [Concomitant]
     Active Substance: ACETAMINOPHEN
     Indication: Pyrexia
  7. ACETAMINOPHEN [Concomitant]
     Active Substance: ACETAMINOPHEN
     Indication: Pain
  8. ACETAMINOPHEN [Concomitant]
     Active Substance: ACETAMINOPHEN
     Indication: Rheumatoid arthritis
  9. ACETAMINOPHEN [Concomitant]
     Active Substance: ACETAMINOPHEN
  10. ACETAMINOPHEN [Concomitant]
     Active Substance: ACETAMINOPHEN
  11. ACTEMRA [Concomitant]
     Active Substance: TOCILIZUMAB
     Indication: Rheumatoid arthritis
  12. ACTEMRA [Concomitant]
     Active Substance: TOCILIZUMAB
     Indication: Product used for unknown indication
  13. ACTEMRA [Concomitant]
     Active Substance: TOCILIZUMAB
     Indication: Psoriatic arthropathy
  14. ACTEMRA [Concomitant]
     Active Substance: TOCILIZUMAB
  15. ACTEMRA [Concomitant]
     Active Substance: TOCILIZUMAB
  16. ACTEMRA [Concomitant]
     Active Substance: TOCILIZUMAB
  17. ACTEMRA [Concomitant]
     Active Substance: TOCILIZUMAB
  18. ACTEMRA [Concomitant]
     Active Substance: TOCILIZUMAB
  19. ACTEMRA [Concomitant]
     Active Substance: TOCILIZUMAB
  20. ACTEMRA [Concomitant]
     Active Substance: TOCILIZUMAB
  21. ACTEMRA [Concomitant]
     Active Substance: TOCILIZUMAB
  22. ACTEMRA [Concomitant]
     Active Substance: TOCILIZUMAB
  23. ACTEMRA [Concomitant]
     Active Substance: TOCILIZUMAB
     Dosage: 2912 MILLIGRAM, QWK, 1 EVERY 1 WEEK, INTRAVENOUS USE
  24. ACTEMRA [Concomitant]
     Active Substance: TOCILIZUMAB
  25. ACTEMRA [Concomitant]
     Active Substance: TOCILIZUMAB
     Dosage: 752.8 MILLIGRAM, QWK, 1 EVERY 1 WEEK, INTRAVENOUS USE
  26. ACTEMRA [Concomitant]
     Active Substance: TOCILIZUMAB
  27. ACTEMRA [Concomitant]
     Active Substance: TOCILIZUMAB
  28. ACTEMRA [Concomitant]
     Active Substance: TOCILIZUMAB
  29. ACTEMRA [Concomitant]
     Active Substance: TOCILIZUMAB
  30. ACTEMRA [Concomitant]
     Active Substance: TOCILIZUMAB
  31. ACTEMRA [Concomitant]
     Active Substance: TOCILIZUMAB
  32. ACTEMRA [Concomitant]
     Active Substance: TOCILIZUMAB
  33. ACTEMRA [Concomitant]
     Active Substance: TOCILIZUMAB
  34. ACTEMRA [Concomitant]
     Active Substance: TOCILIZUMAB
  35. ACTEMRA [Concomitant]
     Active Substance: TOCILIZUMAB
  36. ACTEMRA [Concomitant]
     Active Substance: TOCILIZUMAB
  37. ACTEMRA [Concomitant]
     Active Substance: TOCILIZUMAB
  38. ACTEMRA [Concomitant]
     Active Substance: TOCILIZUMAB
  39. ACTEMRA [Concomitant]
     Active Substance: TOCILIZUMAB
  40. ACTEMRA [Concomitant]
     Active Substance: TOCILIZUMAB
  41. ACTEMRA [Concomitant]
     Active Substance: TOCILIZUMAB
  42. ADALIMUMAB [Concomitant]
     Active Substance: ADALIMUMAB
     Indication: Product used for unknown indication
  43. ADALIMUMAB [Concomitant]
     Active Substance: ADALIMUMAB
     Indication: Psoriatic arthropathy
  44. ADALIMUMAB [Concomitant]
     Active Substance: ADALIMUMAB
  45. ADALIMUMAB [Concomitant]
     Active Substance: ADALIMUMAB
  46. ADALIMUMAB [Concomitant]
     Active Substance: ADALIMUMAB
  47. ADALIMUMAB [Concomitant]
     Active Substance: ADALIMUMAB
  48. ADALIMUMAB [Concomitant]
     Active Substance: ADALIMUMAB
  49. ALENDRONATE SODIUM [Concomitant]
     Active Substance: ALENDRONATE SODIUM
     Indication: Rheumatoid arthritis
  50. ALENDRONATE SODIUM [Concomitant]
     Active Substance: ALENDRONATE SODIUM
     Indication: Product used for unknown indication
  51. ALENDRONATE SODIUM [Concomitant]
     Active Substance: ALENDRONATE SODIUM
  52. ALENDRONATE SODIUM [Concomitant]
     Active Substance: ALENDRONATE SODIUM
  53. ALENDRONATE SODIUM [Concomitant]
     Active Substance: ALENDRONATE SODIUM
  54. ALENDRONATE SODIUM [Concomitant]
     Active Substance: ALENDRONATE SODIUM
  55. ALENDRONATE SODIUM [Concomitant]
     Active Substance: ALENDRONATE SODIUM
  56. ALENDRONATE SODIUM [Concomitant]
     Active Substance: ALENDRONATE SODIUM
  57. ALENDRONATE SODIUM [Concomitant]
     Active Substance: ALENDRONATE SODIUM
  58. ALENDRONIC ACID [Concomitant]
     Active Substance: ALENDRONIC ACID
     Indication: Rheumatoid arthritis
  59. ALENDRONIC ACID [Concomitant]
     Active Substance: ALENDRONIC ACID
  60. ALENDRONIC ACID [Concomitant]
     Active Substance: ALENDRONIC ACID
  61. ALENDRONIC ACID [Concomitant]
     Active Substance: ALENDRONIC ACID
  62. ALENDRONIC ACID [Concomitant]
     Active Substance: ALENDRONIC ACID
  63. PANTOPRAZOLE SODIUM [Concomitant]
     Active Substance: PANTOPRAZOLE SODIUM
     Indication: Product used for unknown indication
  64. PREDNISONE [Concomitant]
     Active Substance: PREDNISONE
     Indication: Rheumatoid arthritis
  65. PREDNISONE [Concomitant]
     Active Substance: PREDNISONE
     Indication: Product used for unknown indication
  66. PREDNISONE [Concomitant]
     Active Substance: PREDNISONE
     Indication: Systemic lupus erythematosus
  67. PREDNISONE [Concomitant]
     Active Substance: PREDNISONE
     Indication: Synovitis
  68. PREDNISONE [Concomitant]
     Active Substance: PREDNISONE
     Indication: Psoriatic arthropathy
  69. PREDNISONE [Concomitant]
     Active Substance: PREDNISONE
     Indication: Pemphigus
  70. PREDNISONE [Concomitant]
     Active Substance: PREDNISONE
     Indication: Inflammation
  71. PREDNISONE [Concomitant]
     Active Substance: PREDNISONE
     Indication: Bursitis
  72. APREMILAST [Concomitant]
     Active Substance: APREMILAST
     Indication: Product used for unknown indication
  73. APREMILAST [Concomitant]
     Active Substance: APREMILAST
  74. APREMILAST [Concomitant]
     Active Substance: APREMILAST
  75. APREMILAST [Concomitant]
     Active Substance: APREMILAST
  76. APREMILAST [Concomitant]
     Active Substance: APREMILAST
  77. APREMILAST [Concomitant]
     Active Substance: APREMILAST
  78. APREMILAST [Concomitant]
     Active Substance: APREMILAST
  79. APREPITANT [Concomitant]
     Active Substance: APREPITANT
     Indication: Rheumatoid arthritis
  80. APREPITANT [Concomitant]
     Active Substance: APREPITANT
     Indication: Product used for unknown indication
  81. APREPITANT [Concomitant]
     Active Substance: APREPITANT
  82. APREPITANT [Concomitant]
     Active Substance: APREPITANT
  83. APREPITANT [Concomitant]
     Active Substance: APREPITANT
  84. APREPITANT [Concomitant]
     Active Substance: APREPITANT
  85. APREPITANT [Concomitant]
     Active Substance: APREPITANT
  86. ARAVA [Concomitant]
     Active Substance: LEFLUNOMIDE
     Indication: Rheumatoid arthritis
  87. ARAVA [Concomitant]
     Active Substance: LEFLUNOMIDE
     Indication: Product used for unknown indication
  88. ARAVA [Concomitant]
     Active Substance: LEFLUNOMIDE
  89. ARAVA [Concomitant]
     Active Substance: LEFLUNOMIDE
  90. ARAVA [Concomitant]
     Active Substance: LEFLUNOMIDE
  91. ARAVA [Concomitant]
     Active Substance: LEFLUNOMIDE
  92. ARAVA [Concomitant]
     Active Substance: LEFLUNOMIDE
  93. ARAVA [Concomitant]
     Active Substance: LEFLUNOMIDE
  94. ARAVA [Concomitant]
     Active Substance: LEFLUNOMIDE
  95. ASACOL [Concomitant]
     Active Substance: MESALAMINE
     Indication: Crohn^s disease
  96. ASACOL [Concomitant]
     Active Substance: MESALAMINE
     Indication: Product used for unknown indication
  97. ATIVAN [Concomitant]
     Active Substance: LORAZEPAM
     Indication: Rheumatoid arthritis
  98. ACETAMINOPHEN\BUTALBITAL [Concomitant]
     Active Substance: ACETAMINOPHEN\BUTALBITAL
     Indication: Rheumatoid arthritis
  99. AZATHIOPRINE [Concomitant]
     Active Substance: AZATHIOPRINE
     Indication: Rheumatoid arthritis
  100. CAFFEINE CITRATE [Concomitant]
     Active Substance: CAFFEINE CITRATE
     Indication: Product used for unknown indication
  101. CALCIUM GLUBIONATE [Concomitant]
     Active Substance: CALCIUM GLUBIONATE
     Indication: Product used for unknown indication
  102. CALCIUM GLUBIONATE [Concomitant]
     Active Substance: CALCIUM GLUBIONATE
  103. CALCIUM GLUCONATE [Concomitant]
     Active Substance: CALCIUM GLUCONATE
     Indication: Product used for unknown indication
  104. CALCIUM LACTATE [Concomitant]
     Active Substance: CALCIUM LACTATE
     Indication: Product used for unknown indication
  105. DIETARY SUPPLEMENT\MINERALS\VITAMINS [Concomitant]
     Active Substance: DIETARY SUPPLEMENT\MINERALS\VITAMINS
     Indication: Rheumatoid arthritis
  106. CELECOXIB [Concomitant]
     Active Substance: CELECOXIB
     Indication: Rheumatoid arthritis
  107. CELECOXIB [Concomitant]
     Active Substance: CELECOXIB
     Indication: Product used for unknown indication
  108. CELECOXIB [Concomitant]
     Active Substance: CELECOXIB
  109. CELECOXIB [Concomitant]
     Active Substance: CELECOXIB
  110. CELECOXIB [Concomitant]
     Active Substance: CELECOXIB
  111. CELECOXIB [Concomitant]
     Active Substance: CELECOXIB
  112. CELECOXIB [Concomitant]
     Active Substance: CELECOXIB
     Indication: Product used for unknown indication
  113. CELECOXIB [Concomitant]
     Active Substance: CELECOXIB
     Indication: Off label use
  114. CELECOXIB [Concomitant]
     Active Substance: CELECOXIB
     Indication: Rheumatoid arthritis
  115. CELECOXIB [Concomitant]
     Active Substance: CELECOXIB
  116. CELECOXIB [Concomitant]
     Active Substance: CELECOXIB
  117. CELECOXIB [Concomitant]
     Active Substance: CELECOXIB
  118. CELECOXIB [Concomitant]
     Active Substance: CELECOXIB
  119. CELECOXIB [Concomitant]
     Active Substance: CELECOXIB
  120. CELECOXIB [Concomitant]
     Active Substance: CELECOXIB
  121. CHLORAPREP [Concomitant]
     Active Substance: CHLORHEXIDINE GLUCONATE\ISOPROPYL ALCOHOL
     Indication: Rheumatoid arthritis
  122. CHLORAPREP [Concomitant]
     Active Substance: CHLORHEXIDINE GLUCONATE\ISOPROPYL ALCOHOL
     Indication: Product used for unknown indication
  123. CHLORAPREP [Concomitant]
     Active Substance: CHLORHEXIDINE GLUCONATE\ISOPROPYL ALCOHOL
  124. CHLORHEXIDINE GLUCONATE [Concomitant]
     Active Substance: CHLORHEXIDINE GLUCONATE
     Indication: Rheumatoid arthritis
  125. CHLORHEXIDINE GLUCONATE [Concomitant]
     Active Substance: CHLORHEXIDINE GLUCONATE
     Indication: Product used for unknown indication
  126. CHLORHEXIDINE GLUCONATE [Concomitant]
     Active Substance: CHLORHEXIDINE GLUCONATE
  127. CHLORHEXIDINE GLUCONATE [Concomitant]
     Active Substance: CHLORHEXIDINE GLUCONATE
  128. CHLORHEXIDINE GLUCONATE [Concomitant]
     Active Substance: CHLORHEXIDINE GLUCONATE
  129. CIMZIA [Concomitant]
     Active Substance: CERTOLIZUMAB PEGOL
     Indication: Rheumatoid arthritis
  130. CIMZIA [Concomitant]
     Active Substance: CERTOLIZUMAB PEGOL
     Indication: Psoriasis
  131. CIMZIA [Concomitant]
     Active Substance: CERTOLIZUMAB PEGOL
     Indication: Product used for unknown indication
  132. CIMZIA [Concomitant]
     Active Substance: CERTOLIZUMAB PEGOL
  133. CIMZIA [Concomitant]
     Active Substance: CERTOLIZUMAB PEGOL
  134. CIMZIA [Concomitant]
     Active Substance: CERTOLIZUMAB PEGOL
  135. CIMZIA [Concomitant]
     Active Substance: CERTOLIZUMAB PEGOL
  136. CIMZIA [Concomitant]
     Active Substance: CERTOLIZUMAB PEGOL
  137. CIMZIA [Concomitant]
     Active Substance: CERTOLIZUMAB PEGOL
  138. CIMZIA [Concomitant]
     Active Substance: CERTOLIZUMAB PEGOL
  139. CIMZIA [Concomitant]
     Active Substance: CERTOLIZUMAB PEGOL
  140. CIMZIA [Concomitant]
     Active Substance: CERTOLIZUMAB PEGOL
  141. CIMZIA [Concomitant]
     Active Substance: CERTOLIZUMAB PEGOL
  142. CODEINE [Concomitant]
     Active Substance: CODEINE
     Indication: Rheumatoid arthritis
  143. CODEINE [Concomitant]
     Active Substance: CODEINE
     Indication: Product used for unknown indication
  144. BORAGE OIL [Concomitant]
     Active Substance: BORAGE OIL
     Indication: Product used for unknown indication
  145. CODEINE SULFATE [Concomitant]
     Active Substance: CODEINE SULFATE
     Indication: Rheumatoid arthritis
  146. CODEINE SULFATE [Concomitant]
     Active Substance: CODEINE SULFATE
     Indication: Product used for unknown indication
  147. COSENTYX [Concomitant]
     Active Substance: SECUKINUMAB
     Indication: Rheumatoid arthritis
  148. COSENTYX [Concomitant]
     Active Substance: SECUKINUMAB
     Indication: Psoriatic arthropathy
  149. COSENTYX [Concomitant]
     Active Substance: SECUKINUMAB
     Indication: Product used for unknown indication
  150. COSENTYX [Concomitant]
     Active Substance: SECUKINUMAB
  151. DESOXIMETASONE [Concomitant]
     Active Substance: DESOXIMETASONE
     Indication: Rheumatoid arthritis
  152. DESOXIMETASONE [Concomitant]
     Active Substance: DESOXIMETASONE
     Indication: Product used for unknown indication
  153. DESOXIMETASONE [Concomitant]
     Active Substance: DESOXIMETASONE
  154. DESOXIMETASONE [Concomitant]
     Active Substance: DESOXIMETASONE
  155. DESOXIMETASONE [Concomitant]
     Active Substance: DESOXIMETASONE
  156. DESOXIMETASONE [Concomitant]
     Active Substance: DESOXIMETASONE
  157. DESOXIMETASONE [Concomitant]
     Active Substance: DESOXIMETASONE
  158. DESOXIMETASONE [Concomitant]
     Active Substance: DESOXIMETASONE
  159. DESOXIMETASONE [Concomitant]
     Active Substance: DESOXIMETASONE
  160. DESOXIMETASONE [Concomitant]
     Active Substance: DESOXIMETASONE
  161. DESOXIMETASONE [Concomitant]
     Active Substance: DESOXIMETASONE
     Dosage: 25 MILLIGRAM, QWK, 1 EVERY 1 WEEK, ORAL USE
  162. DESOXIMETASONE [Concomitant]
     Active Substance: DESOXIMETASONE
  163. DESOXIMETASONE [Concomitant]
     Active Substance: DESOXIMETASONE
  164. DESOXIMETASONE [Concomitant]
     Active Substance: DESOXIMETASONE
  165. DESOXIMETASONE [Concomitant]
     Active Substance: DESOXIMETASONE
  166. DESOXIMETASONE [Concomitant]
     Active Substance: DESOXIMETASONE
  167. DESOXIMETASONE [Concomitant]
     Active Substance: DESOXIMETASONE
  168. DICLOFENAC SODIUM [Concomitant]
     Active Substance: DICLOFENAC SODIUM
     Indication: Rheumatoid arthritis
  169. DICLOFENAC SODIUM [Concomitant]
     Active Substance: DICLOFENAC SODIUM
     Indication: Product used for unknown indication
  170. DICLOFENAC SODIUM [Concomitant]
     Active Substance: DICLOFENAC SODIUM
  171. DICLOFENAC SODIUM [Concomitant]
     Active Substance: DICLOFENAC SODIUM
  172. DICLOFENAC SODIUM [Concomitant]
     Active Substance: DICLOFENAC SODIUM
  173. DICLOFENAC SODIUM [Concomitant]
     Active Substance: DICLOFENAC SODIUM
  174. DICLOFENAC SODIUM [Concomitant]
     Active Substance: DICLOFENAC SODIUM
  175. DICLOFENAC SODIUM [Concomitant]
     Active Substance: DICLOFENAC SODIUM
  176. DICLOFENAC SODIUM [Concomitant]
     Active Substance: DICLOFENAC SODIUM
  177. DICLOFENAC POTASSIUM [Concomitant]
     Active Substance: DICLOFENAC POTASSIUM
     Indication: Rheumatoid arthritis
  178. DICLOFENAC POTASSIUM [Concomitant]
     Active Substance: DICLOFENAC POTASSIUM
     Indication: Product used for unknown indication
  179. DICLOFENAC POTASSIUM [Concomitant]
     Active Substance: DICLOFENAC POTASSIUM
  180. DICLOFENAC POTASSIUM [Concomitant]
     Active Substance: DICLOFENAC POTASSIUM
  181. DICLOFENAC POTASSIUM [Concomitant]
     Active Substance: DICLOFENAC POTASSIUM
  182. DICLOFENAC POTASSIUM [Concomitant]
     Active Substance: DICLOFENAC POTASSIUM
  183. DICLOFENAC POTASSIUM [Concomitant]
     Active Substance: DICLOFENAC POTASSIUM
     Indication: Product used for unknown indication
  184. DICLOFENAC POTASSIUM [Concomitant]
     Active Substance: DICLOFENAC POTASSIUM
  185. DIPHENHYDRAMINE HYDROCHLORIDE [Concomitant]
     Active Substance: DIPHENHYDRAMINE HYDROCHLORIDE
     Indication: Product used for unknown indication
  186. DOXYCYCLINE HYCLATE [Concomitant]
     Active Substance: DOXYCYCLINE HYCLATE
     Indication: Rheumatoid arthritis
  187. DOXYCYCLINE HYCLATE [Concomitant]
     Active Substance: DOXYCYCLINE HYCLATE
  188. CALCIUM CARBONATE [Concomitant]
     Active Substance: CALCIUM CARBONATE
     Indication: Product used for unknown indication
  189. CALCIUM CARBONATE [Concomitant]
     Active Substance: CALCIUM CARBONATE
  190. ENBREL [Concomitant]
     Active Substance: ETANERCEPT
     Indication: Rheumatoid arthritis
  191. ENBREL [Concomitant]
     Active Substance: ETANERCEPT
     Indication: Psoriatic arthropathy
  192. ENBREL [Concomitant]
     Active Substance: ETANERCEPT
     Indication: Product used for unknown indication
  193. ENBREL [Concomitant]
     Active Substance: ETANERCEPT
     Dosage: 50 MILLIGRAM, QWK, 1 EVERY 1 WEEKS, SUBCUTANEOUS USE
  194. ENBREL [Concomitant]
     Active Substance: ETANERCEPT
     Dosage: 20 MILLIGRAM, QWK, 1 EVERY 1 WEEKS
  195. ENBREL [Concomitant]
     Active Substance: ETANERCEPT
  196. ENBREL [Concomitant]
     Active Substance: ETANERCEPT
  197. ENBREL [Concomitant]
     Active Substance: ETANERCEPT
  198. ENBREL [Concomitant]
     Active Substance: ETANERCEPT
  199. ENBREL [Concomitant]
     Active Substance: ETANERCEPT
  200. ENBREL [Concomitant]
     Active Substance: ETANERCEPT
  201. ENBREL [Concomitant]
     Active Substance: ETANERCEPT
     Dosage: 20 MILLIGRAM, QWK, 1 EVERY 1 WEEKS, SUBCUTANEOUS USE
  202. ENBREL [Concomitant]
     Active Substance: ETANERCEPT
  203. ENBREL [Concomitant]
     Active Substance: ETANERCEPT
  204. ENBREL [Concomitant]
     Active Substance: ETANERCEPT
     Dosage: UNK, QWK, 1 EVERY 1 WEEKS, SUBCUTANEOUS USE
  205. ENBREL [Concomitant]
     Active Substance: ETANERCEPT
     Dosage: UNK, QWK, 1 EVERY 1 WEEKS
  206. ENBREL [Concomitant]
     Active Substance: ETANERCEPT
  207. ENBREL [Concomitant]
     Active Substance: ETANERCEPT
  208. ERELZI [Concomitant]
     Active Substance: ETANERCEPT-SZZS
     Indication: Rheumatoid arthritis
  209. ERELZI [Concomitant]
     Active Substance: ETANERCEPT-SZZS
     Indication: Product used for unknown indication
  210. ERELZI [Concomitant]
     Active Substance: ETANERCEPT-SZZS
  211. ERELZI [Concomitant]
     Active Substance: ETANERCEPT-SZZS
  212. ERELZI [Concomitant]
     Active Substance: ETANERCEPT-SZZS
     Dosage: 50 MILLIGRAM, QWK, 1 EVERY 1 WEEKS
  213. ERELZI [Concomitant]
     Active Substance: ETANERCEPT-SZZS
  214. ERGOCALCIFEROL [Concomitant]
     Active Substance: ERGOCALCIFEROL
     Indication: Rheumatoid arthritis
  215. ERGOCALCIFEROL [Concomitant]
     Active Substance: ERGOCALCIFEROL
  216. ERYTHROMYCIN [Concomitant]
     Active Substance: ERYTHROMYCIN
     Indication: Product used for unknown indication
     Route: 065
  217. FLUMETHASONE PIVALATE [Concomitant]
     Active Substance: FLUMETHASONE PIVALATE
     Indication: Rheumatoid arthritis
  218. FLUMETHASONE PIVALATE [Concomitant]
     Active Substance: FLUMETHASONE PIVALATE
     Indication: Product used for unknown indication
  219. FLUMETHASONE PIVALATE [Concomitant]
     Active Substance: FLUMETHASONE PIVALATE
  220. FLUMETHASONE PIVALATE [Concomitant]
     Active Substance: FLUMETHASONE PIVALATE
  221. FLUMETHASONE PIVALATE [Concomitant]
     Active Substance: FLUMETHASONE PIVALATE
     Indication: Rheumatoid arthritis
  222. FLUMETHASONE PIVALATE [Concomitant]
     Active Substance: FLUMETHASONE PIVALATE
  223. FOLIC ACID [Concomitant]
     Active Substance: FOLIC ACID
     Indication: Rheumatoid arthritis
  224. FOLIC ACID [Concomitant]
     Active Substance: FOLIC ACID
     Indication: Product used for unknown indication
  225. FOLIC ACID [Concomitant]
     Active Substance: FOLIC ACID
  226. FOLIC ACID [Concomitant]
     Active Substance: FOLIC ACID
  227. FOLIC ACID [Concomitant]
     Active Substance: FOLIC ACID
  228. FOLIC ACID [Concomitant]
     Active Substance: FOLIC ACID
  229. FOLIC ACID [Concomitant]
     Active Substance: FOLIC ACID
  230. FOLIC ACID [Concomitant]
     Active Substance: FOLIC ACID
  231. FOLIC ACID [Concomitant]
     Active Substance: FOLIC ACID
  232. FOLIC ACID [Concomitant]
     Active Substance: FOLIC ACID
  233. FOLIC ACID [Concomitant]
     Active Substance: FOLIC ACID
  234. FOLIC ACID [Concomitant]
     Active Substance: FOLIC ACID
  235. FOLIC ACID [Concomitant]
     Active Substance: FOLIC ACID
  236. FOLIC ACID [Concomitant]
     Active Substance: FOLIC ACID
  237. FOLIC ACID [Concomitant]
     Active Substance: FOLIC ACID
  238. FOLIC ACID [Concomitant]
     Active Substance: FOLIC ACID
  239. FOLIC ACID [Concomitant]
     Active Substance: FOLIC ACID
  240. FOLIC ACID [Concomitant]
     Active Substance: FOLIC ACID
  241. FOSAMAX [Concomitant]
     Active Substance: ALENDRONATE SODIUM
     Indication: Rheumatoid arthritis
  242. FOSAMAX [Concomitant]
     Active Substance: ALENDRONATE SODIUM
     Indication: Product used for unknown indication
  243. FOSAMAX [Concomitant]
     Active Substance: ALENDRONATE SODIUM
  244. FOSAMAX [Concomitant]
     Active Substance: ALENDRONATE SODIUM
  245. FOSAMAX [Concomitant]
     Active Substance: ALENDRONATE SODIUM
  246. FOSAMAX [Concomitant]
     Active Substance: ALENDRONATE SODIUM
  247. FOSAMAX [Concomitant]
     Active Substance: ALENDRONATE SODIUM
  248. FOSAMAX [Concomitant]
     Active Substance: ALENDRONATE SODIUM
  249. GLUCOSAMINE [Concomitant]
     Active Substance: GLUCOSAMINE
     Indication: Rheumatoid arthritis
  250. HUMIRA [Concomitant]
     Active Substance: ADALIMUMAB
     Indication: Rheumatoid arthritis
  251. HUMIRA [Concomitant]
     Active Substance: ADALIMUMAB
     Indication: Product used for unknown indication
  252. HUMIRA [Concomitant]
     Active Substance: ADALIMUMAB
     Indication: Psoriatic arthropathy
  253. HUMIRA [Concomitant]
     Active Substance: ADALIMUMAB
  254. HUMIRA [Concomitant]
     Active Substance: ADALIMUMAB
  255. HUMIRA [Concomitant]
     Active Substance: ADALIMUMAB
  256. HUMIRA [Concomitant]
     Active Substance: ADALIMUMAB
  257. HYALURONIDASE [Concomitant]
     Active Substance: HYALURONIDASE
     Indication: Product used for unknown indication
  258. HYALURONIDASE [Concomitant]
     Active Substance: HYALURONIDASE
  259. HYALURONIDASE [Concomitant]
     Active Substance: HYALURONIDASE
  260. HYDROCORTISONE [Concomitant]
     Active Substance: HYDROCORTISONE
     Indication: Rheumatoid arthritis
  261. HYDROCORTISONE [Concomitant]
     Active Substance: HYDROCORTISONE
     Indication: Product used for unknown indication
  262. HYDROCORTISONE [Concomitant]
     Active Substance: HYDROCORTISONE
  263. HYDROCORTISONE [Concomitant]
     Active Substance: HYDROCORTISONE
  264. HYDROCORTISONE [Concomitant]
     Active Substance: HYDROCORTISONE
  265. HYDROCORTISONE [Concomitant]
     Active Substance: HYDROCORTISONE
  266. HYDROCORTISONE [Concomitant]
     Active Substance: HYDROCORTISONE
  267. HYDROCORTISONE [Concomitant]
     Active Substance: HYDROCORTISONE
  268. HYDROCORTISONE [Concomitant]
     Active Substance: HYDROCORTISONE
  269. HYDROCORTISONE [Concomitant]
     Active Substance: HYDROCORTISONE
  270. HYDROCORTISONE BUTYRATE [Concomitant]
     Active Substance: HYDROCORTISONE BUTYRATE
     Indication: Rheumatoid arthritis
  271. HYDROCORTISONE BUTYRATE [Concomitant]
     Active Substance: HYDROCORTISONE BUTYRATE
     Indication: Product used for unknown indication
  272. HYDROCORTISONE BUTYRATE [Concomitant]
     Active Substance: HYDROCORTISONE BUTYRATE
  273. HYDROCORTISONE BUTYRATE [Concomitant]
     Active Substance: HYDROCORTISONE BUTYRATE
     Dosage: 50 MILLIGRAM, QWK, 1 EVERY 1 WEEKS, SUBCUTANEOUS USE,
  274. HYDROCORTISONE SODIUM SUCCINATE [Concomitant]
     Active Substance: HYDROCORTISONE SODIUM SUCCINATE
     Indication: Rheumatoid arthritis
  275. HYDROCORTISONE SODIUM SUCCINATE [Concomitant]
     Active Substance: HYDROCORTISONE SODIUM SUCCINATE
  276. HYDROCORTISONE SODIUM SUCCINATE [Concomitant]
     Active Substance: HYDROCORTISONE SODIUM SUCCINATE
  277. HYDROCORTISONE SODIUM SUCCINATE [Concomitant]
     Active Substance: HYDROCORTISONE SODIUM SUCCINATE
  278. HYDROCORTISONE SODIUM SUCCINATE [Concomitant]
     Active Substance: HYDROCORTISONE SODIUM SUCCINATE
  279. HYDROCORTISONE SODIUM SUCCINATE [Concomitant]
     Active Substance: HYDROCORTISONE SODIUM SUCCINATE
  280. HYDROCORTISONE SODIUM SUCCINATE [Concomitant]
     Active Substance: HYDROCORTISONE SODIUM SUCCINATE
  281. HYDROXYCHLOROQUINE SULFATE [Concomitant]
     Active Substance: HYDROXYCHLOROQUINE SULFATE
     Indication: Rheumatoid arthritis
  282. HYDROXYCHLOROQUINE SULFATE [Concomitant]
     Active Substance: HYDROXYCHLOROQUINE SULFATE
     Indication: Systemic lupus erythematosus
  283. HYDROXYCHLOROQUINE SULFATE [Concomitant]
     Active Substance: HYDROXYCHLOROQUINE SULFATE
  284. HYDROXYCHLOROQUINE SULFATE [Concomitant]
     Active Substance: HYDROXYCHLOROQUINE SULFATE
  285. HYDROXYCHLOROQUINE SULFATE [Concomitant]
     Active Substance: HYDROXYCHLOROQUINE SULFATE
  286. HYDROXYCHLOROQUINE SULFATE [Concomitant]
     Active Substance: HYDROXYCHLOROQUINE SULFATE
  287. HYDROXYCHLOROQUINE SULFATE [Concomitant]
     Active Substance: HYDROXYCHLOROQUINE SULFATE
  288. HYDROXYCHLOROQUINE SULFATE [Concomitant]
     Active Substance: HYDROXYCHLOROQUINE SULFATE
  289. HYDROXYCHLOROQUINE SULFATE [Concomitant]
     Active Substance: HYDROXYCHLOROQUINE SULFATE
  290. HYDROXYCHLOROQUINE SULFATE [Concomitant]
     Active Substance: HYDROXYCHLOROQUINE SULFATE
  291. HYDROXYCHLOROQUINE SULFATE [Concomitant]
     Active Substance: HYDROXYCHLOROQUINE SULFATE
  292. HYDROXYCHLOROQUINE SULFATE [Concomitant]
     Active Substance: HYDROXYCHLOROQUINE SULFATE
  293. HYDROXYCHLOROQUINE SULFATE [Concomitant]
     Active Substance: HYDROXYCHLOROQUINE SULFATE
  294. HYDROXYCHLOROQUINE SULFATE [Concomitant]
     Active Substance: HYDROXYCHLOROQUINE SULFATE
  295. HYDROXYCHLOROQUINE SULFATE [Concomitant]
     Active Substance: HYDROXYCHLOROQUINE SULFATE
     Indication: Rheumatoid arthritis
  296. HYDROXYCHLOROQUINE SULFATE [Concomitant]
     Active Substance: HYDROXYCHLOROQUINE SULFATE
  297. HYDROXYCHLOROQUINE SULFATE [Concomitant]
     Active Substance: HYDROXYCHLOROQUINE SULFATE
  298. HYDROXYCHLOROQUINE SULFATE [Concomitant]
     Active Substance: HYDROXYCHLOROQUINE SULFATE
  299. HYDROXYCHLOROQUINE SULFATE [Concomitant]
     Active Substance: HYDROXYCHLOROQUINE SULFATE
  300. HYDROXYCHLOROQUINE SULFATE [Concomitant]
     Active Substance: HYDROXYCHLOROQUINE SULFATE
  301. HYDROXYCHLOROQUINE SULFATE [Concomitant]
     Active Substance: HYDROXYCHLOROQUINE SULFATE
  302. HYDROXYCHLOROQUINE SULFATE [Concomitant]
     Active Substance: HYDROXYCHLOROQUINE SULFATE
  303. HYDROXYCHLOROQUINE SULFATE [Concomitant]
     Active Substance: HYDROXYCHLOROQUINE SULFATE
  304. INFLIXIMAB [Concomitant]
     Active Substance: INFLIXIMAB
     Indication: Product used for unknown indication
  305. INFLIXIMAB [Concomitant]
     Active Substance: INFLIXIMAB
     Indication: Rheumatoid arthritis
  306. INFLIXIMAB [Concomitant]
     Active Substance: INFLIXIMAB
  307. INFLIXIMAB [Concomitant]
     Active Substance: INFLIXIMAB
  308. INFLIXIMAB [Concomitant]
     Active Substance: INFLIXIMAB
     Indication: Rheumatoid arthritis
  309. INFLIXIMAB [Concomitant]
     Active Substance: INFLIXIMAB
  310. INFLIXIMAB [Concomitant]
     Active Substance: INFLIXIMAB
  311. ISOPROPYL ALCOHOL [Concomitant]
     Active Substance: ISOPROPYL ALCOHOL
     Indication: Rheumatoid arthritis
  312. ISOPROPYL ALCOHOL [Concomitant]
     Active Substance: ISOPROPYL ALCOHOL
     Indication: Product used for unknown indication
  313. ISOPROPYL ALCOHOL [Concomitant]
     Active Substance: ISOPROPYL ALCOHOL
  314. ISOPROPYL ALCOHOL [Concomitant]
     Active Substance: ISOPROPYL ALCOHOL
  315. LANSOPRAZOLE [Concomitant]
     Active Substance: LANSOPRAZOLE
     Indication: Rheumatoid arthritis
  316. LANSOPRAZOLE [Concomitant]
     Active Substance: LANSOPRAZOLE
     Indication: Product used for unknown indication
  317. LANSOPRAZOLE [Concomitant]
     Active Substance: LANSOPRAZOLE
     Indication: Rheumatoid arthritis
  318. LANSOPRAZOLE [Concomitant]
     Active Substance: LANSOPRAZOLE
  319. LEFLUNOMIDE [Concomitant]
     Active Substance: LEFLUNOMIDE
     Indication: Rheumatoid arthritis
  320. LEFLUNOMIDE [Concomitant]
     Active Substance: LEFLUNOMIDE
     Indication: Product used for unknown indication
  321. LEFLUNOMIDE [Concomitant]
     Active Substance: LEFLUNOMIDE
  322. LEFLUNOMIDE [Concomitant]
     Active Substance: LEFLUNOMIDE
     Indication: Rheumatoid arthritis
  323. LEFLUNOMIDE [Concomitant]
     Active Substance: LEFLUNOMIDE
  324. LISINOPRIL [Concomitant]
     Active Substance: LISINOPRIL
     Indication: Product used for unknown indication
  325. LISINOPRIL [Concomitant]
     Active Substance: LISINOPRIL
     Indication: Product used for unknown indication
  326. CLIOQUINOL\FLUMETHASONE [Concomitant]
     Active Substance: CLIOQUINOL\FLUMETHASONE
     Indication: Product used for unknown indication
  327. LORAZEPAM [Concomitant]
     Active Substance: LORAZEPAM
     Indication: Product used for unknown indication
  328. LORAZEPAM [Concomitant]
     Active Substance: LORAZEPAM
     Indication: Rheumatoid arthritis
  329. MAGNESIUM GLUCONATE [Concomitant]
     Active Substance: MAGNESIUM GLUCONATE
     Indication: Product used for unknown indication
  330. MAGNESIUM GLUCONATE [Concomitant]
     Active Substance: MAGNESIUM GLUCONATE
  331. MAGNESIUM SULFATE [Concomitant]
     Active Substance: MAGNESIUM SULFATE
     Indication: Product used for unknown indication
  332. MAGNESIUM [Concomitant]
     Active Substance: MAGNESIUM
     Indication: Product used for unknown indication
  333. MAGNESIUM [Concomitant]
     Active Substance: MAGNESIUM
  334. LYRICA [Concomitant]
     Active Substance: PREGABALIN
     Indication: Product used for unknown indication
  335. LYRICA [Concomitant]
     Active Substance: PREGABALIN
  336. MELOXICAM [Concomitant]
     Active Substance: MELOXICAM
     Indication: Product used for unknown indication
  337. MELOXICAM [Concomitant]
     Active Substance: MELOXICAM
  338. MESALAMINE [Concomitant]
     Active Substance: MESALAMINE
     Indication: Product used for unknown indication
  339. MESALAMINE [Concomitant]
     Active Substance: MESALAMINE
     Indication: Crohn^s disease
  340. METHOTREXATE [Concomitant]
     Active Substance: METHOTREXATE
     Indication: Rheumatoid arthritis
  341. METHOTREXATE [Concomitant]
     Active Substance: METHOTREXATE
     Indication: Product used for unknown indication
  342. METHOTREXATE [Concomitant]
     Active Substance: METHOTREXATE
  343. METHOTREXATE [Concomitant]
     Active Substance: METHOTREXATE
  344. METHOTREXATE [Concomitant]
     Active Substance: METHOTREXATE
  345. METHOTREXATE [Concomitant]
     Active Substance: METHOTREXATE
  346. METHOTREXATE [Concomitant]
     Active Substance: METHOTREXATE
  347. METHOTREXATE [Concomitant]
     Active Substance: METHOTREXATE
  348. METHOTREXATE [Concomitant]
     Active Substance: METHOTREXATE
  349. METHOTREXATE [Concomitant]
     Active Substance: METHOTREXATE
     Dosage: 25 MILLIGRAM, QWK, 1 EVERY 1 WEEK, SUBCUTANEOUS USE
  350. METHOTREXATE [Concomitant]
     Active Substance: METHOTREXATE
  351. METHOTREXATE [Concomitant]
     Active Substance: METHOTREXATE
  352. METHOTREXATE [Concomitant]
     Active Substance: METHOTREXATE
     Dosage: 20 MILLIGRAM, QWK, 1 EVERY 1 WEEKS, ORAL USE
  353. METHOTREXATE [Concomitant]
     Active Substance: METHOTREXATE
  354. METHOTREXATE [Concomitant]
     Active Substance: METHOTREXATE
  355. METHOTREXATE [Concomitant]
     Active Substance: METHOTREXATE
  356. METHOTREXATE [Concomitant]
     Active Substance: METHOTREXATE
  357. METHOTREXATE [Concomitant]
     Active Substance: METHOTREXATE
  358. METHOTREXATE [Concomitant]
     Active Substance: METHOTREXATE
  359. METHOTREXATE [Concomitant]
     Active Substance: METHOTREXATE
  360. METHOTREXATE [Concomitant]
     Active Substance: METHOTREXATE
  361. METHOTREXATE [Concomitant]
     Active Substance: METHOTREXATE
     Dosage: 250 MILLIGRAM, QWK, 1 EVERY 1 WEEKS, SUBCUTANEOUS USE
  362. METHOTREXATE [Concomitant]
     Active Substance: METHOTREXATE
  363. METHOTREXATE [Concomitant]
     Active Substance: METHOTREXATE
     Dosage: 20 MILLIGRAM, QWK, 1 EVERY 1 WEEK, SUBCUTANEOUS USE
  364. METHOTREXATE [Concomitant]
     Active Substance: METHOTREXATE
  365. METHOTREXATE [Concomitant]
     Active Substance: METHOTREXATE
  366. METHOTREXATE [Concomitant]
     Active Substance: METHOTREXATE
  367. METHOTREXATE [Concomitant]
     Active Substance: METHOTREXATE
  368. METHOTREXATE [Concomitant]
     Active Substance: METHOTREXATE
  369. METHOTREXATE [Concomitant]
     Active Substance: METHOTREXATE
     Dosage: 20 MILLIGRAM, QWK, 1 EVERY 1 WEEK FOR 11 YEARS, SUBCUTANEOUS USE
  370. METHOTREXATE [Concomitant]
     Active Substance: METHOTREXATE
     Dosage: 25 MILLIGRAM, QWK, 1 EVERY 1 WEEK FOR 11 YEARS, SUBCUTANEOUS USE
  371. METHOTREXATE [Concomitant]
     Active Substance: METHOTREXATE
  372. METHOTREXATE [Concomitant]
     Active Substance: METHOTREXATE
  373. METHOTREXATE [Concomitant]
     Active Substance: METHOTREXATE
  374. METHOTREXATE [Concomitant]
     Active Substance: METHOTREXATE
  375. METHOTREXATE [Concomitant]
     Active Substance: METHOTREXATE
     Indication: Rheumatoid arthritis
  376. METHOTREXATE [Concomitant]
     Active Substance: METHOTREXATE
     Dosage: 25 MILLIGRAM, QWK, 1 EVERY 1 WEEK, ORAL USE
  377. METHOTREXATE [Concomitant]
     Active Substance: METHOTREXATE
  378. METHOTREXATE [Concomitant]
     Active Substance: METHOTREXATE
  379. METHOTREXATE [Concomitant]
     Active Substance: METHOTREXATE
  380. METHOTREXATE [Concomitant]
     Active Substance: METHOTREXATE
  381. METHOTREXATE [Concomitant]
     Active Substance: METHOTREXATE
     Dosage: 20 MILLIGRAM, QWK, 1 EVERY 1 WEEKS, ORAL USE
  382. METHOTREXATE [Concomitant]
     Active Substance: METHOTREXATE
     Dosage: 2 MILLIGRAM, QWK, 1 EVERY 1 WEEKS, ORAL USE
  383. METHOTREXATE [Concomitant]
     Active Substance: METHOTREXATE
  384. METHOTREXATE [Concomitant]
     Active Substance: METHOTREXATE
  385. METHOTREXATE [Concomitant]
     Active Substance: METHOTREXATE
  386. METHOTREXATE [Concomitant]
     Active Substance: METHOTREXATE
     Dosage: 20 MILLIGRAM, QWK, 1 EVERY 1 WEEKS, ORAL USE
  387. METHOTREXATE [Concomitant]
     Active Substance: METHOTREXATE
  388. METHOTREXATE [Concomitant]
     Active Substance: METHOTREXATE
  389. METHOTREXATE [Concomitant]
     Active Substance: METHOTREXATE
     Dosage: 20 MILLIGRAM, QWK, 1 EVERY 1 WEEKS, ORAL USE
  390. MORPHINE [Concomitant]
     Active Substance: MORPHINE
     Indication: Rheumatoid arthritis
  391. MORPHINE SULFATE [Concomitant]
     Active Substance: MORPHINE SULFATE
     Indication: Rheumatoid arthritis
  392. MYCOPHENOLATE MOFETIL [Concomitant]
     Active Substance: MYCOPHENOLATE MOFETIL
     Indication: Rheumatoid arthritis
  393. NAPROXEN SODIUM [Concomitant]
     Active Substance: NAPROXEN SODIUM
     Indication: Product used for unknown indication
  394. NAPROXEN SODIUM [Concomitant]
     Active Substance: NAPROXEN SODIUM
     Indication: Rheumatoid arthritis
  395. NAPROXEN SODIUM [Concomitant]
     Active Substance: NAPROXEN SODIUM
  396. NAPROXEN SODIUM [Concomitant]
     Active Substance: NAPROXEN SODIUM
  397. NAPROXEN SODIUM [Concomitant]
     Active Substance: NAPROXEN SODIUM
  398. ORENCIA [Concomitant]
     Active Substance: ABATACEPT
     Indication: Rheumatoid arthritis
  399. ORENCIA [Concomitant]
     Active Substance: ABATACEPT
     Indication: Product used for unknown indication
  400. ORENCIA [Concomitant]
     Active Substance: ABATACEPT
  401. ORENCIA [Concomitant]
     Active Substance: ABATACEPT
  402. ORENCIA [Concomitant]
     Active Substance: ABATACEPT
  403. ORENCIA [Concomitant]
     Active Substance: ABATACEPT
  404. ORENCIA [Concomitant]
     Active Substance: ABATACEPT
  405. ORENCIA [Concomitant]
     Active Substance: ABATACEPT
  406. ORENCIA [Concomitant]
     Active Substance: ABATACEPT
  407. ORENCIA [Concomitant]
     Active Substance: ABATACEPT
  408. ORENCIA [Concomitant]
     Active Substance: ABATACEPT
  409. ORENCIA [Concomitant]
     Active Substance: ABATACEPT
  410. ORENCIA [Concomitant]
     Active Substance: ABATACEPT
  411. ORENCIA [Concomitant]
     Active Substance: ABATACEPT
  412. ORENCIA [Concomitant]
     Active Substance: ABATACEPT
     Indication: Rheumatoid arthritis
  413. ORENCIA [Concomitant]
     Active Substance: ABATACEPT
     Indication: Product used for unknown indication
  414. ORENCIA [Concomitant]
     Active Substance: ABATACEPT
  415. ORENCIA [Concomitant]
     Active Substance: ABATACEPT
  416. ORENCIA [Concomitant]
     Active Substance: ABATACEPT
  417. ORENCIA [Concomitant]
     Active Substance: ABATACEPT
     Dosage: 125 MILLIGRAM, QWK, 1 EVERY 1 WEEK, SUBCUTANEOUS USE
  418. ORENCIA [Concomitant]
     Active Substance: ABATACEPT
  419. ORENCIA [Concomitant]
     Active Substance: ABATACEPT
     Dosage: 120 MILLIGRAM, QWK, 1 EVERY 1 WEEK, SUBCUTANEOUS USE
  420. ORENCIA [Concomitant]
     Active Substance: ABATACEPT
  421. ORENCIA [Concomitant]
     Active Substance: ABATACEPT
  422. ORENCIA [Concomitant]
     Active Substance: ABATACEPT
  423. PANTOPRAZOLE SODIUM [Concomitant]
     Active Substance: PANTOPRAZOLE SODIUM
     Indication: Product used for unknown indication
  424. PARA-AMINOSALICYLIC ACID [Concomitant]
     Active Substance: AMINOSALICYLIC ACID
     Indication: Product used for unknown indication
  425. PHTHALYLSULFATHIAZOLE [Concomitant]
     Active Substance: PHTHALYLSULFATHIAZOLE
     Indication: Product used for unknown indication
  426. PHTHALYLSULFATHIAZOLE [Concomitant]
     Active Substance: PHTHALYLSULFATHIAZOLE
     Indication: Rheumatoid arthritis
  427. PHTHALYLSULFATHIAZOLE [Concomitant]
     Active Substance: PHTHALYLSULFATHIAZOLE
  428. PHTHALYLSULFATHIAZOLE [Concomitant]
     Active Substance: PHTHALYLSULFATHIAZOLE
  429. PHTHALYLSULFATHIAZOLE [Concomitant]
     Active Substance: PHTHALYLSULFATHIAZOLE
  430. PHTHALYLSULFATHIAZOLE [Concomitant]
     Active Substance: PHTHALYLSULFATHIAZOLE
  431. PHTHALYLSULFATHIAZOLE [Concomitant]
     Active Substance: PHTHALYLSULFATHIAZOLE
  432. PHTHALYLSULFATHIAZOLE [Concomitant]
     Active Substance: PHTHALYLSULFATHIAZOLE
  433. PHTHALYLSULFATHIAZOLE [Concomitant]
     Active Substance: PHTHALYLSULFATHIAZOLE
  434. PHTHALYLSULFATHIAZOLE [Concomitant]
     Active Substance: PHTHALYLSULFATHIAZOLE
  435. PHTHALYLSULFATHIAZOLE [Concomitant]
     Active Substance: PHTHALYLSULFATHIAZOLE
  436. PHTHALYLSULFATHIAZOLE [Concomitant]
     Active Substance: PHTHALYLSULFATHIAZOLE
  437. PHTHALYLSULFATHIAZOLE [Concomitant]
     Active Substance: PHTHALYLSULFATHIAZOLE
  438. PHTHALYLSULFATHIAZOLE [Concomitant]
     Active Substance: PHTHALYLSULFATHIAZOLE
  439. PHTHALYLSULFATHIAZOLE [Concomitant]
     Active Substance: PHTHALYLSULFATHIAZOLE
  440. PHTHALYLSULFATHIAZOLE [Concomitant]
     Active Substance: PHTHALYLSULFATHIAZOLE
  441. PHTHALYLSULFATHIAZOLE [Concomitant]
     Active Substance: PHTHALYLSULFATHIAZOLE
  442. PHTHALYLSULFATHIAZOLE [Concomitant]
     Active Substance: PHTHALYLSULFATHIAZOLE
  443. PHTHALYLSULFATHIAZOLE [Concomitant]
     Active Substance: PHTHALYLSULFATHIAZOLE
  444. PHTHALYLSULFATHIAZOLE [Concomitant]
     Active Substance: PHTHALYLSULFATHIAZOLE
  445. PIROXICAM [Concomitant]
     Active Substance: PIROXICAM
     Indication: Product used for unknown indication
  446. PREDNISONE [Concomitant]
     Active Substance: PREDNISONE
     Indication: Product used for unknown indication
  447. PREDNISONE [Concomitant]
     Active Substance: PREDNISONE
     Indication: Rheumatoid arthritis
     Route: 048
  448. PREDNISONE [Concomitant]
     Active Substance: PREDNISONE
     Indication: Psoriatic arthropathy
     Route: 048
  449. PREDNISONE [Concomitant]
     Active Substance: PREDNISONE
     Indication: Condition aggravated
     Route: 065
  450. PREDNISONE [Concomitant]
     Active Substance: PREDNISONE
     Route: 048
  451. PREDNISONE [Concomitant]
     Active Substance: PREDNISONE
     Route: 048
  452. PREDNISONE [Concomitant]
     Active Substance: PREDNISONE
     Route: 042
  453. PREDNISONE [Concomitant]
     Active Substance: PREDNISONE
     Route: 065
  454. PREDNISONE [Concomitant]
     Active Substance: PREDNISONE
     Route: 048
  455. PREDNISONE [Concomitant]
     Active Substance: PREDNISONE
     Route: 042
  456. PREDNISONE [Concomitant]
     Active Substance: PREDNISONE
     Route: 065
  457. PREDNISONE [Concomitant]
     Active Substance: PREDNISONE
     Route: 058
  458. PREDNISONE [Concomitant]
     Active Substance: PREDNISONE
     Route: 048
  459. PREGABALIN [Concomitant]
     Active Substance: PREGABALIN
     Indication: Product used for unknown indication
     Route: 065
  460. PREGABALIN [Concomitant]
     Active Substance: PREGABALIN
     Route: 048
  461. PREGABALIN [Concomitant]
     Active Substance: PREGABALIN
     Indication: Product used for unknown indication
     Route: 065
  462. PREGABALIN [Concomitant]
     Active Substance: PREGABALIN
     Indication: Rheumatoid arthritis
     Route: 048
  463. PSEUDOEPHEDRINE [Concomitant]
     Active Substance: PSEUDOEPHEDRINE
     Indication: Product used for unknown indication
     Route: 065
  464. PSEUDOEPHEDRINE [Concomitant]
     Active Substance: PSEUDOEPHEDRINE
     Indication: Rheumatoid arthritis
     Route: 065
  465. PSEUDOEPHEDRINE [Concomitant]
     Active Substance: PSEUDOEPHEDRINE
     Route: 065
  466. PSEUDOEPHEDRINE [Concomitant]
     Active Substance: PSEUDOEPHEDRINE
     Indication: Product used for unknown indication
     Route: 065
  467. PSEUDOEPHEDRINE [Concomitant]
     Active Substance: PSEUDOEPHEDRINE
     Route: 065
  468. PSEUDOEPHEDRINE [Concomitant]
     Active Substance: PSEUDOEPHEDRINE
     Route: 065
  469. PSEUDOEPHEDRINE [Concomitant]
     Active Substance: PSEUDOEPHEDRINE
     Route: 065
  470. QUETIAPINE FUMARATE [Concomitant]
     Active Substance: QUETIAPINE FUMARATE
     Indication: Product used for unknown indication
     Route: 065
  471. QUETIAPINE [Concomitant]
     Active Substance: QUETIAPINE
     Indication: Product used for unknown indication
     Route: 065
  472. RAMIPRIL [Concomitant]
     Active Substance: RAMIPRIL
     Indication: Product used for unknown indication
     Route: 065
  473. Reactine [Concomitant]
     Indication: Rheumatoid arthritis
     Route: 016
  474. Reactine [Concomitant]
     Indication: Product used for unknown indication
     Route: 048
  475. Reactine [Concomitant]
     Route: 048
  476. Reactine [Concomitant]
     Route: 048
  477. Reactine [Concomitant]
     Route: 065
  478. CETIRIZINE HYDROCHLORIDE\PSEUDOEPHEDRINE HYDROCHLORIDE [Concomitant]
     Active Substance: CETIRIZINE HYDROCHLORIDE\PSEUDOEPHEDRINE HYDROCHLORIDE
     Indication: Rheumatoid arthritis
     Route: 065
  479. CETIRIZINE HYDROCHLORIDE\PSEUDOEPHEDRINE HYDROCHLORIDE [Concomitant]
     Active Substance: CETIRIZINE HYDROCHLORIDE\PSEUDOEPHEDRINE HYDROCHLORIDE
     Route: 048
  480. CETIRIZINE HYDROCHLORIDE\PSEUDOEPHEDRINE HYDROCHLORIDE [Concomitant]
     Active Substance: CETIRIZINE HYDROCHLORIDE\PSEUDOEPHEDRINE HYDROCHLORIDE
     Route: 065
  481. CETIRIZINE HYDROCHLORIDE\PSEUDOEPHEDRINE HYDROCHLORIDE [Concomitant]
     Active Substance: CETIRIZINE HYDROCHLORIDE\PSEUDOEPHEDRINE HYDROCHLORIDE
     Route: 065
  482. CETIRIZINE HYDROCHLORIDE\PSEUDOEPHEDRINE HYDROCHLORIDE [Concomitant]
     Active Substance: CETIRIZINE HYDROCHLORIDE\PSEUDOEPHEDRINE HYDROCHLORIDE
     Route: 065
  483. CETIRIZINE HYDROCHLORIDE\PSEUDOEPHEDRINE HYDROCHLORIDE [Concomitant]
     Active Substance: CETIRIZINE HYDROCHLORIDE\PSEUDOEPHEDRINE HYDROCHLORIDE
     Indication: Rheumatoid arthritis
     Route: 065
  484. CETIRIZINE HYDROCHLORIDE\PSEUDOEPHEDRINE HYDROCHLORIDE [Concomitant]
     Active Substance: CETIRIZINE HYDROCHLORIDE\PSEUDOEPHEDRINE HYDROCHLORIDE
     Route: 048
  485. CETIRIZINE HYDROCHLORIDE\PSEUDOEPHEDRINE HYDROCHLORIDE [Concomitant]
     Active Substance: CETIRIZINE HYDROCHLORIDE\PSEUDOEPHEDRINE HYDROCHLORIDE
     Route: 065
  486. CETIRIZINE HYDROCHLORIDE\PSEUDOEPHEDRINE HYDROCHLORIDE [Concomitant]
     Active Substance: CETIRIZINE HYDROCHLORIDE\PSEUDOEPHEDRINE HYDROCHLORIDE
     Route: 065
  487. RITUXIMAB [Concomitant]
     Active Substance: RITUXIMAB
     Indication: Rheumatoid arthritis
     Route: 065
  488. RITUXIMAB [Concomitant]
     Active Substance: RITUXIMAB
     Indication: Product used for unknown indication
     Route: 058
  489. RITUXIMAB [Concomitant]
     Active Substance: RITUXIMAB
     Route: 042
  490. RITUXIMAB [Concomitant]
     Active Substance: RITUXIMAB
  491. RITUXIMAB [Concomitant]
     Active Substance: RITUXIMAB
     Route: 043
  492. RITUXIMAB [Concomitant]
     Active Substance: RITUXIMAB
     Indication: Rheumatoid arthritis
     Route: 058
  493. RITUXIMAB [Concomitant]
     Active Substance: RITUXIMAB
     Route: 042
  494. RITUXIMAB [Concomitant]
     Active Substance: RITUXIMAB
     Route: 065
  495. RITUXIMAB [Concomitant]
     Active Substance: RITUXIMAB
     Route: 016
  496. RITUXIMAB [Concomitant]
     Active Substance: RITUXIMAB
     Route: 016
  497. DIETARY SUPPLEMENT\HERBALS [Concomitant]
     Active Substance: DIETARY SUPPLEMENT\HERBALS
     Indication: Product used for unknown indication
     Route: 065
  498. ALBUTEROL [Concomitant]
     Active Substance: ALBUTEROL
     Indication: Product used for unknown indication
     Route: 065
  499. ALBUTEROL [Concomitant]
     Active Substance: ALBUTEROL
     Indication: Product used for unknown indication
     Route: 065
  500. SIMPONI [Concomitant]
     Active Substance: GOLIMUMAB
     Indication: Rheumatoid arthritis
     Route: 058
  501. SIMPONI [Concomitant]
     Active Substance: GOLIMUMAB
     Indication: Psoriatic arthropathy
     Route: 058
  502. SIMPONI [Concomitant]
     Active Substance: GOLIMUMAB
     Indication: Product used for unknown indication
     Route: 065
  503. SIMPONI [Concomitant]
     Active Substance: GOLIMUMAB
     Route: 052
  504. SIMPONI [Concomitant]
     Active Substance: GOLIMUMAB
     Route: 042
  505. SULFASALAZINE [Concomitant]
     Active Substance: SULFASALAZINE
     Indication: Product used for unknown indication
     Route: 065
  506. SULFASALAZINE [Concomitant]
     Active Substance: SULFASALAZINE
     Indication: Rheumatoid arthritis
     Route: 048
  507. SULFASALAZINE [Concomitant]
     Active Substance: SULFASALAZINE
     Route: 048
  508. SULFASALAZINE [Concomitant]
     Active Substance: SULFASALAZINE
     Route: 048
  509. SULFASALAZINE [Concomitant]
     Active Substance: SULFASALAZINE
     Route: 048
  510. SULFASALAZINE [Concomitant]
     Active Substance: SULFASALAZINE
     Route: 065
  511. SULFASALAZINE [Concomitant]
     Active Substance: SULFASALAZINE
     Route: 048
  512. SULFASALAZINE [Concomitant]
     Active Substance: SULFASALAZINE
     Route: 048
  513. SULFASALAZINE [Concomitant]
     Active Substance: SULFASALAZINE
     Route: 048
  514. SULFASALAZINE [Concomitant]
     Active Substance: SULFASALAZINE
     Route: 048
  515. SULFASALAZINE [Concomitant]
     Active Substance: SULFASALAZINE
     Route: 048
  516. SULFASALAZINE [Concomitant]
     Active Substance: SULFASALAZINE
     Route: 048
  517. SULFASALAZINE [Concomitant]
     Active Substance: SULFASALAZINE
     Route: 048
  518. SULFASALAZINE [Concomitant]
     Active Substance: SULFASALAZINE
     Route: 058
  519. SULFASALAZINE [Concomitant]
     Active Substance: SULFASALAZINE
     Route: 048
  520. SULFASALAZINE [Concomitant]
     Active Substance: SULFASALAZINE
     Route: 065
  521. SULFASALAZINE [Concomitant]
     Active Substance: SULFASALAZINE
     Route: 048
  522. SULFASALAZINE [Concomitant]
     Active Substance: SULFASALAZINE
     Route: 058
  523. SULFASALAZINE [Concomitant]
     Active Substance: SULFASALAZINE
     Route: 048
  524. SULFASALAZINE [Concomitant]
     Active Substance: SULFASALAZINE
     Route: 065
  525. SULFASALAZINE [Concomitant]
     Active Substance: SULFASALAZINE
     Route: 048
  526. SULFASALAZINE [Concomitant]
     Active Substance: SULFASALAZINE
     Route: 065
  527. SULFASALAZINE [Concomitant]
     Active Substance: SULFASALAZINE
     Route: 065
  528. SULFASALAZINE [Concomitant]
     Active Substance: SULFASALAZINE
     Route: 048
  529. SULFASALAZINE [Concomitant]
     Active Substance: SULFASALAZINE
     Route: 048
  530. SULFASALAZINE [Concomitant]
     Active Substance: SULFASALAZINE
     Route: 048
  531. SULFASALAZINE [Concomitant]
     Active Substance: SULFASALAZINE
     Route: 048
  532. SULFASALAZINE [Concomitant]
     Active Substance: SULFASALAZINE
     Indication: Product used for unknown indication
     Route: 048
  533. SULFASALAZINE [Concomitant]
     Active Substance: SULFASALAZINE
     Route: 065
  534. SULFASALAZINE [Concomitant]
     Active Substance: SULFASALAZINE
     Route: 048
  535. SULFASALAZINE [Concomitant]
     Active Substance: SULFASALAZINE
     Route: 048
  536. SULFASALAZINE [Concomitant]
     Active Substance: SULFASALAZINE
     Route: 058
  537. SULFASALAZINE [Concomitant]
     Active Substance: SULFASALAZINE
     Route: 048
  538. SULFASALAZINE [Concomitant]
     Active Substance: SULFASALAZINE
     Route: 048
  539. SULFASALAZINE [Concomitant]
     Active Substance: SULFASALAZINE
     Route: 058
  540. SULFASALAZINE [Concomitant]
     Active Substance: SULFASALAZINE
     Route: 048
  541. SULFASALAZINE [Concomitant]
     Active Substance: SULFASALAZINE
     Route: 048
  542. SULFASALAZINE [Concomitant]
     Active Substance: SULFASALAZINE
     Route: 048
  543. SULFASALAZINE [Concomitant]
     Active Substance: SULFASALAZINE
     Route: 048
  544. SULFASALAZINE [Concomitant]
     Active Substance: SULFASALAZINE
     Route: 065
  545. SULFASALAZINE [Concomitant]
     Active Substance: SULFASALAZINE
     Route: 048
  546. SULFASALAZINE [Concomitant]
     Active Substance: SULFASALAZINE
     Route: 065
  547. SULFASALAZINE [Concomitant]
     Active Substance: SULFASALAZINE
     Route: 048
  548. SULFASALAZINE [Concomitant]
     Active Substance: SULFASALAZINE
     Route: 065
  549. SULFASALAZINE [Concomitant]
     Active Substance: SULFASALAZINE
     Route: 048
  550. TUMS [Concomitant]
     Active Substance: CALCIUM CARBONATE
     Indication: Product used for unknown indication
     Route: 065
  551. USTEKINUMAB [Concomitant]
     Active Substance: USTEKINUMAB
     Indication: Product used for unknown indication
     Route: 058
  552. USTEKINUMAB [Concomitant]
     Active Substance: USTEKINUMAB
     Indication: Psoriatic arthropathy
     Route: 042
  553. USTEKINUMAB [Concomitant]
     Active Substance: USTEKINUMAB
     Route: 058
  554. USTEKINUMAB [Concomitant]
     Active Substance: USTEKINUMAB
     Route: 065
  555. ZESTRIL [Concomitant]
     Active Substance: LISINOPRIL
     Indication: Product used for unknown indication
     Route: 065
  556. ZESTRIL [Concomitant]
     Active Substance: LISINOPRIL
     Route: 048
  557. TRAMADOL HYDROCHLORIDE [Concomitant]
     Active Substance: TRAMADOL HYDROCHLORIDE
     Indication: Product used for unknown indication
     Route: 065
  558. TRIAMCINOLONE ACETONIDE [Concomitant]
     Active Substance: TRIAMCINOLONE ACETONIDE
     Indication: Rheumatoid arthritis
     Route: 014
  559. TRIAMCINOLONE ACETONIDE [Concomitant]
     Active Substance: TRIAMCINOLONE ACETONIDE
     Route: 013
  560. TRIAMCINOLONE ACETONIDE [Concomitant]
     Active Substance: TRIAMCINOLONE ACETONIDE
     Route: 065
  561. TRIAMCINOLONE ACETONIDE [Concomitant]
     Active Substance: TRIAMCINOLONE ACETONIDE
     Route: 065
  562. PREDNISONE [Concomitant]
     Active Substance: PREDNISONE
     Indication: Rheumatoid arthritis
     Route: 048
  563. XELJANZ [Concomitant]
     Active Substance: TOFACITINIB CITRATE
     Indication: Rheumatoid arthritis
     Route: 065
  564. XELJANZ [Concomitant]
     Active Substance: TOFACITINIB CITRATE
     Indication: Psoriatic arthropathy
     Route: 048
  565. XELJANZ [Concomitant]
     Active Substance: TOFACITINIB CITRATE
     Indication: Product used for unknown indication
     Route: 065
  566. XELJANZ [Concomitant]
     Active Substance: TOFACITINIB CITRATE
     Dosage: 5 MILLIGRAM, QWK, 1 EVERY 1 WEEK
     Route: 048
  567. XELJANZ [Concomitant]
     Active Substance: TOFACITINIB CITRATE
     Route: 065
  568. XELJANZ [Concomitant]
     Active Substance: TOFACITINIB CITRATE
     Route: 065
  569. XELJANZ [Concomitant]
     Active Substance: TOFACITINIB CITRATE
     Route: 065
  570. XELJANZ [Concomitant]
     Active Substance: TOFACITINIB CITRATE
     Route: 065
  571. XELJANZ [Concomitant]
     Active Substance: TOFACITINIB CITRATE
     Indication: Rheumatoid arthritis
     Route: 065
  572. XELJANZ [Concomitant]
     Active Substance: TOFACITINIB CITRATE
     Route: 048
  573. XELJANZ [Concomitant]
     Active Substance: TOFACITINIB CITRATE
     Route: 065
  574. XELJANZ [Concomitant]
     Active Substance: TOFACITINIB CITRATE
     Route: 048
  575. XELJANZ [Concomitant]
     Active Substance: TOFACITINIB CITRATE
     Route: 065
  576. XELJANZ [Concomitant]
     Active Substance: TOFACITINIB CITRATE
     Route: 065
  577. XELJANZ [Concomitant]
     Active Substance: TOFACITINIB CITRATE
     Route: 065
  578. XELJANZ [Concomitant]
     Active Substance: TOFACITINIB CITRATE
     Route: 048
  579. SULFAMETHOXAZOLE\TRIMETHOPRIM [Concomitant]
     Active Substance: SULFAMETHOXAZOLE\TRIMETHOPRIM
     Indication: Product used for unknown indication
     Route: 065
  580. SULFAMETHOXAZOLE\TRIMETHOPRIM [Concomitant]
     Active Substance: SULFAMETHOXAZOLE\TRIMETHOPRIM
     Route: 067
  581. SULFAMETHOXAZOLE [Concomitant]
     Active Substance: SULFAMETHOXAZOLE
     Indication: Rheumatoid arthritis
     Route: 065
  582. SULFAMETHOXAZOLE [Concomitant]
     Active Substance: SULFAMETHOXAZOLE
     Indication: Product used for unknown indication
  583. STELARA [Concomitant]
     Active Substance: USTEKINUMAB
     Indication: Psoriatic arthropathy
     Route: 042
  584. STELARA [Concomitant]
     Active Substance: USTEKINUMAB
     Indication: Product used for unknown indication
     Route: 058
  585. STELARA [Concomitant]
     Active Substance: USTEKINUMAB
     Route: 042
  586. STELARA [Concomitant]
     Active Substance: USTEKINUMAB
     Route: 065
  587. STELARA [Concomitant]
     Active Substance: USTEKINUMAB
     Route: 058
  588. PREVACID [Concomitant]
     Active Substance: LANSOPRAZOLE
     Indication: Product used for unknown indication
     Route: 048
  589. SULFASALAZINE [Concomitant]
     Active Substance: SULFASALAZINE
     Indication: Rheumatoid arthritis
     Route: 048
  590. SULFASALAZINE [Concomitant]
     Active Substance: SULFASALAZINE
     Route: 048
  591. SULFASALAZINE [Concomitant]
     Active Substance: SULFASALAZINE
     Route: 048
  592. SULFASALAZINE [Concomitant]
     Active Substance: SULFASALAZINE
     Route: 048
  593. SULFASALAZINE [Concomitant]
     Active Substance: SULFASALAZINE
     Route: 065
  594. SULFASALAZINE [Concomitant]
     Active Substance: SULFASALAZINE
     Route: 048
  595. SULFASALAZINE [Concomitant]
     Active Substance: SULFASALAZINE
     Route: 048
  596. DIETARY SUPPLEMENT [Concomitant]
     Active Substance: DIETARY SUPPLEMENT
     Indication: Product used for unknown indication
     Route: 065
  597. PERIOGARD [Concomitant]
     Active Substance: CHLORHEXIDINE GLUCONATE
     Indication: Product used for unknown indication
     Route: 048
  598. ALFACALCIDOL [Concomitant]
     Active Substance: ALFACALCIDOL
     Indication: Product used for unknown indication
     Route: 065
  599. IODINE [Concomitant]
     Active Substance: IODINE
     Indication: Product used for unknown indication
     Route: 065
  600. ENTYVIO [Concomitant]
     Active Substance: VEDOLIZUMAB
     Indication: Product used for unknown indication
     Route: 065
  601. DILTIAZEM HYDROCHLORIDE [Concomitant]
     Active Substance: DILTIAZEM HYDROCHLORIDE
     Indication: Product used for unknown indication
     Route: 065
  602. DILTIAZEM HYDROCHLORIDE [Concomitant]
     Active Substance: DILTIAZEM HYDROCHLORIDE
     Route: 042
  603. DILTIAZEM [Concomitant]
     Active Substance: DILTIAZEM
     Indication: Product used for unknown indication
     Route: 065
  604. DICLOFENAC DIETHYLAMINE [Concomitant]
     Active Substance: DICLOFENAC DIETHYLAMINE
     Indication: Product used for unknown indication
     Route: 058
  605. DICLOFENAC DIETHYLAMINE [Concomitant]
     Active Substance: DICLOFENAC DIETHYLAMINE
     Route: 065
  606. DICLOFENAC DIETHYLAMINE [Concomitant]
     Active Substance: DICLOFENAC DIETHYLAMINE
     Route: 065
  607. DICLOFENAC DIETHYLAMINE [Concomitant]
     Active Substance: DICLOFENAC DIETHYLAMINE
     Route: 047
  608. DICLOFENAC DIETHYLAMINE [Concomitant]
     Active Substance: DICLOFENAC DIETHYLAMINE
     Route: 048
  609. DICLOFENAC DIETHYLAMINE [Concomitant]
     Active Substance: DICLOFENAC DIETHYLAMINE
     Route: 047
  610. DICLOFENAC DIETHYLAMINE [Concomitant]
     Active Substance: DICLOFENAC DIETHYLAMINE
     Route: 048
  611. COD LIVER OIL [Concomitant]
     Active Substance: COD LIVER OIL
     Indication: Product used for unknown indication
     Route: 065
  612. CERTOLIZUMAB PEGOL [Concomitant]
     Active Substance: CERTOLIZUMAB PEGOL
     Indication: Product used for unknown indication
     Route: 065
  613. CERTOLIZUMAB PEGOL [Concomitant]
     Active Substance: CERTOLIZUMAB PEGOL
     Route: 065
  614. CERTOLIZUMAB PEGOL [Concomitant]
     Active Substance: CERTOLIZUMAB PEGOL
     Route: 058
  615. CERTOLIZUMAB PEGOL [Concomitant]
     Active Substance: CERTOLIZUMAB PEGOL
     Route: 058
  616. CERTOLIZUMAB PEGOL [Concomitant]
     Active Substance: CERTOLIZUMAB PEGOL
     Route: 058
  617. CERTOLIZUMAB PEGOL [Concomitant]
     Active Substance: CERTOLIZUMAB PEGOL
     Route: 058
  618. CERTOLIZUMAB PEGOL [Concomitant]
     Active Substance: CERTOLIZUMAB PEGOL
     Route: 065
  619. CALCIUM\CHOLECALCIFEROL [Concomitant]
     Active Substance: CALCIUM\CHOLECALCIFEROL
     Indication: Product used for unknown indication
     Route: 065
  620. REMICADE [Concomitant]
     Active Substance: INFLIXIMAB
     Indication: Rheumatoid arthritis
     Route: 065
  621. REMICADE [Concomitant]
     Active Substance: INFLIXIMAB
     Route: 065
  622. REMICADE [Concomitant]
     Active Substance: INFLIXIMAB
     Route: 042
  623. REMICADE [Concomitant]
     Active Substance: INFLIXIMAB
     Route: 042
  624. PLAQUENIL [Concomitant]
     Active Substance: HYDROXYCHLOROQUINE SULFATE
     Indication: Product used for unknown indication
     Route: 065
  625. PERCOCET [Concomitant]
     Active Substance: ACETAMINOPHEN\OXYCODONE HYDROCHLORIDE
     Indication: Product used for unknown indication
     Route: 065
  626. PARA-AMINOSALICYLIC ACID [Concomitant]
     Active Substance: AMINOSALICYLIC ACID
     Indication: Product used for unknown indication
     Route: 065
  627. OTEZLA [Concomitant]
     Active Substance: APREMILAST
     Indication: Product used for unknown indication
     Route: 048
  628. OTEZLA [Concomitant]
     Active Substance: APREMILAST
     Route: 065
  629. OTEZLA [Concomitant]
     Active Substance: APREMILAST
     Route: 042
  630. OTEZLA [Concomitant]
     Active Substance: APREMILAST
     Route: 048
  631. OTEZLA [Concomitant]
     Active Substance: APREMILAST
     Route: 048
  632. OTEZLA [Concomitant]
     Active Substance: APREMILAST
     Route: 048
  633. KEVZARA [Concomitant]
     Active Substance: SARILUMAB
     Indication: Rheumatoid arthritis
     Route: 065
  634. KEVZARA [Concomitant]
     Active Substance: SARILUMAB
     Indication: Product used for unknown indication
     Route: 003
  635. ETHINYL ESTRADIOL\NORETHINDRONE [Concomitant]
     Active Substance: ETHINYL ESTRADIOL\NORETHINDRONE
     Indication: Product used for unknown indication
     Route: 065
  636. DIPHENHYDRAMINE HYDROCHLORIDE [Concomitant]
     Active Substance: DIPHENHYDRAMINE HYDROCHLORIDE
     Indication: Product used for unknown indication
     Route: 065
  637. CALTRATE WITH VITAMIN D [Concomitant]
     Active Substance: CALCIUM CARBONATE\CHOLECALCIFEROL
     Indication: Product used for unknown indication
     Route: 065
  638. EMEND [Concomitant]
     Active Substance: APREPITANT
     Indication: Rheumatoid arthritis
     Route: 048
  639. EMEND [Concomitant]
     Active Substance: APREPITANT
     Indication: Product used for unknown indication
     Route: 065
  640. EMEND [Concomitant]
     Active Substance: APREPITANT
     Route: 048
  641. EMEND [Concomitant]
     Active Substance: APREPITANT
     Route: 065
  642. CORTISONE [Concomitant]
     Active Substance: CORTISONE
     Indication: Rheumatoid arthritis
     Route: 048
  643. CORTISONE [Concomitant]
     Active Substance: CORTISONE
     Route: 065
  644. CORTISONE [Concomitant]
     Active Substance: CORTISONE
     Route: 058
  645. CORTISONE [Concomitant]
     Active Substance: CORTISONE
     Route: 048
  646. CORTISONE [Concomitant]
     Active Substance: CORTISONE
     Route: 003
  647. CORTISONE [Concomitant]
     Active Substance: CORTISONE
     Route: 058
  648. CORTISONE [Concomitant]
     Active Substance: CORTISONE
     Route: 065
  649. CORTISONE [Concomitant]
     Active Substance: CORTISONE
     Route: 061
  650. IBUPROFEN [Concomitant]
     Active Substance: IBUPROFEN
     Indication: Product used for unknown indication
     Route: 065
  651. Gramicidin;Neomycin sulfate;Nystatin [Concomitant]
     Indication: Product used for unknown indication
     Route: 065
  652. HYDROXYCHLOROQUINE SULFATE [Concomitant]
     Active Substance: HYDROXYCHLOROQUINE SULFATE
     Indication: Rheumatoid arthritis
     Route: 005
  653. HYDROXYCHLOROQUINE SULFATE [Concomitant]
     Active Substance: HYDROXYCHLOROQUINE SULFATE
     Route: 048
  654. HYDROXYCHLOROQUINE SULFATE [Concomitant]
     Active Substance: HYDROXYCHLOROQUINE SULFATE
     Route: 065
  655. HYDROXYCHLOROQUINE SULFATE [Concomitant]
     Active Substance: HYDROXYCHLOROQUINE SULFATE
     Route: 048
  656. HYDROXYCHLOROQUINE SULFATE [Concomitant]
     Active Substance: HYDROXYCHLOROQUINE SULFATE
     Route: 048
  657. HYDROXYCHLOROQUINE SULFATE [Concomitant]
     Active Substance: HYDROXYCHLOROQUINE SULFATE
     Route: 016
  658. HYDROXYCHLOROQUINE SULFATE [Concomitant]
     Active Substance: HYDROXYCHLOROQUINE SULFATE
     Route: 048
  659. HYDROXYCHLOROQUINE SULFATE [Concomitant]
     Active Substance: HYDROXYCHLOROQUINE SULFATE
     Route: 048
  660. HYDROXYCHLOROQUINE SULFATE [Concomitant]
     Active Substance: HYDROXYCHLOROQUINE SULFATE
     Route: 065
  661. DOXYCYCLINE [Concomitant]
     Active Substance: DOXYCYCLINE
     Indication: Rheumatoid arthritis
     Route: 005
  662. DOXYCYCLINE [Concomitant]
     Active Substance: DOXYCYCLINE
     Route: 005
  663. CYANOCOBALAMIN [Concomitant]
     Active Substance: CYANOCOBALAMIN
     Indication: Product used for unknown indication
     Route: 065
  664. OXYCODONE [Concomitant]
     Active Substance: OXYCODONE
     Indication: Product used for unknown indication
     Route: 065
  665. CALCIUM [Concomitant]
     Active Substance: CALCIUM
     Indication: Product used for unknown indication
     Route: 065
  666. PREDNISOLONE [Concomitant]
     Active Substance: PREDNISOLONE
     Indication: Product used for unknown indication
     Route: 065
  667. PREDNISOLONE [Concomitant]
     Active Substance: PREDNISOLONE
     Route: 065
  668. PREDNISOLONE [Concomitant]
     Active Substance: PREDNISOLONE
     Route: 065
  669. ALENDRONIC ACID [Concomitant]
     Active Substance: ALENDRONIC ACID
     Indication: Rheumatoid arthritis
     Route: 065
  670. ALENDRONIC ACID [Concomitant]
     Active Substance: ALENDRONIC ACID
     Route: 065
  671. ALENDRONIC ACID [Concomitant]
     Active Substance: ALENDRONIC ACID
     Route: 048
  672. Atasol [Concomitant]
     Indication: Product used for unknown indication
     Route: 065
  673. LEFLUNOMIDE [Concomitant]
     Active Substance: LEFLUNOMIDE
     Indication: Rheumatoid arthritis
     Route: 048
  674. LEFLUNOMIDE [Concomitant]
     Active Substance: LEFLUNOMIDE
     Route: 065
  675. CELEBREX [Concomitant]
     Active Substance: CELECOXIB
     Indication: Product used for unknown indication
     Route: 048
  676. CELEBREX [Concomitant]
     Active Substance: CELECOXIB
     Route: 048
  677. CELEBREX [Concomitant]
     Active Substance: CELECOXIB
     Route: 065
  678. CETIRIZINE [Concomitant]
     Active Substance: CETIRIZINE HYDROCHLORIDE
     Indication: Rheumatoid arthritis
     Route: 048
  679. CETIRIZINE [Concomitant]
     Active Substance: CETIRIZINE HYDROCHLORIDE
     Indication: Off label use
     Route: 048
  680. CETIRIZINE [Concomitant]
     Active Substance: CETIRIZINE HYDROCHLORIDE
     Route: 048
  681. CETIRIZINE [Concomitant]
     Active Substance: CETIRIZINE HYDROCHLORIDE
     Route: 048
  682. CETIRIZINE [Concomitant]
     Active Substance: CETIRIZINE HYDROCHLORIDE
     Route: 065
  683. CETIRIZINE [Concomitant]
     Active Substance: CETIRIZINE HYDROCHLORIDE
     Route: 065
  684. CETIRIZINE [Concomitant]
     Active Substance: CETIRIZINE HYDROCHLORIDE
     Route: 048
  685. CETIRIZINE [Concomitant]
     Active Substance: CETIRIZINE HYDROCHLORIDE
     Route: 048
  686. CHLORHEXIDINE [Concomitant]
     Active Substance: CHLORHEXIDINE
     Indication: Product used for unknown indication
     Route: 002
  687. CHLORHEXIDINE [Concomitant]
     Active Substance: CHLORHEXIDINE
     Route: 061
  688. CHLORHEXIDINE [Concomitant]
     Active Substance: CHLORHEXIDINE
     Route: 048
  689. CHLORHEXIDINE GLUCONATE\ISOPROPYL ALCOHOL [Concomitant]
     Active Substance: CHLORHEXIDINE GLUCONATE\ISOPROPYL ALCOHOL
     Indication: Product used for unknown indication
     Route: 016
  690. CHLORHEXIDINE GLUCONATE\ISOPROPYL ALCOHOL [Concomitant]
     Active Substance: CHLORHEXIDINE GLUCONATE\ISOPROPYL ALCOHOL
     Route: 048
  691. CHLORHEXIDINE GLUCONATE\ISOPROPYL ALCOHOL [Concomitant]
     Active Substance: CHLORHEXIDINE GLUCONATE\ISOPROPYL ALCOHOL
     Route: 002
  692. CHLORHEXIDINE GLUCONATE\ISOPROPYL ALCOHOL [Concomitant]
     Active Substance: CHLORHEXIDINE GLUCONATE\ISOPROPYL ALCOHOL
     Route: 061
  693. CHLORHEXIDINE GLUCONATE\ISOPROPYL ALCOHOL [Concomitant]
     Active Substance: CHLORHEXIDINE GLUCONATE\ISOPROPYL ALCOHOL
     Route: 065
  694. CHOLECALCIFEROL [Concomitant]
     Active Substance: CHOLECALCIFEROL
     Indication: Product used for unknown indication
     Route: 065
  695. CORTISONE ACETATE [Concomitant]
     Active Substance: CORTISONE ACETATE
     Indication: Rheumatoid arthritis
     Route: 048
  696. CORTISONE ACETATE [Concomitant]
     Active Substance: CORTISONE ACETATE
     Route: 065
  697. CORTISONE ACETATE [Concomitant]
     Active Substance: CORTISONE ACETATE
     Route: 061
  698. CORTISONE ACETATE [Concomitant]
     Active Substance: CORTISONE ACETATE
     Route: 065
  699. CORTISONE ACETATE [Concomitant]
     Active Substance: CORTISONE ACETATE
     Route: 048
  700. HYDROCORTISONE ACETATE [Concomitant]
     Active Substance: HYDROCORTISONE ACETATE
     Indication: Rheumatoid arthritis
     Route: 058
  701. HYDROCORTISONE ACETATE [Concomitant]
     Active Substance: HYDROCORTISONE ACETATE
     Route: 048
  702. HYDROCORTISONE ACETATE [Concomitant]
     Active Substance: HYDROCORTISONE ACETATE
     Route: 003
  703. HYDROCORTISONE ACETATE [Concomitant]
     Active Substance: HYDROCORTISONE ACETATE
     Route: 065
  704. HYDROCORTISONE ACETATE [Concomitant]
     Active Substance: HYDROCORTISONE ACETATE
     Route: 065
  705. HYDROCORTISONE ACETATE [Concomitant]
     Active Substance: HYDROCORTISONE ACETATE
     Route: 048
  706. CETIRIZINE HYDROCHLORIDE [Concomitant]
     Active Substance: CETIRIZINE HYDROCHLORIDE
     Indication: Rheumatoid arthritis
     Route: 065
  707. CETIRIZINE HYDROCHLORIDE [Concomitant]
     Active Substance: CETIRIZINE HYDROCHLORIDE
     Route: 048
  708. CETIRIZINE HYDROCHLORIDE [Concomitant]
     Active Substance: CETIRIZINE HYDROCHLORIDE
     Route: 048
  709. CETIRIZINE HYDROCHLORIDE [Concomitant]
     Active Substance: CETIRIZINE HYDROCHLORIDE
     Route: 065
  710. CETIRIZINE HYDROCHLORIDE [Concomitant]
     Active Substance: CETIRIZINE HYDROCHLORIDE
     Route: 048
  711. CETIRIZINE HYDROCHLORIDE [Concomitant]
     Active Substance: CETIRIZINE HYDROCHLORIDE
     Route: 065
  712. CETIRIZINE HYDROCHLORIDE [Concomitant]
     Active Substance: CETIRIZINE HYDROCHLORIDE
     Indication: Rheumatoid arthritis
     Route: 065
  713. CETIRIZINE HYDROCHLORIDE [Concomitant]
     Active Substance: CETIRIZINE HYDROCHLORIDE
     Route: 048
  714. CETIRIZINE HYDROCHLORIDE [Concomitant]
     Active Substance: CETIRIZINE HYDROCHLORIDE
     Route: 048
  715. CETIRIZINE HYDROCHLORIDE [Concomitant]
     Active Substance: CETIRIZINE HYDROCHLORIDE
     Route: 065
  716. CETIRIZINE HYDROCHLORIDE [Concomitant]
     Active Substance: CETIRIZINE HYDROCHLORIDE
     Route: 065
  717. CETIRIZINE HYDROCHLORIDE [Concomitant]
     Active Substance: CETIRIZINE HYDROCHLORIDE
     Route: 065
  718. ACETAMINOPHEN\CAFFEINE\CODEINE [Concomitant]
     Active Substance: ACETAMINOPHEN\CAFFEINE\CODEINE
     Indication: Product used for unknown indication
     Route: 065
  719. ACETAMINOPHEN\CAFFEINE\CODEINE PHOSPHATE [Concomitant]
     Active Substance: ACETAMINOPHEN\CAFFEINE\CODEINE PHOSPHATE
     Indication: Product used for unknown indication
     Route: 065
  720. CETIRIZINE HYDROCHLORIDE\PSEUDOEPHEDRINE HYDROCHLORIDE [Concomitant]
     Active Substance: CETIRIZINE HYDROCHLORIDE\PSEUDOEPHEDRINE HYDROCHLORIDE
     Indication: Rheumatoid arthritis
     Route: 065
  721. CETIRIZINE HYDROCHLORIDE\IBUPROFEN\PSEUDOEPHEDRINE HYDROCHLORIDE [Concomitant]
     Active Substance: CETIRIZINE HYDROCHLORIDE\IBUPROFEN\PSEUDOEPHEDRINE HYDROCHLORIDE
     Indication: Rheumatoid arthritis
     Route: 065
  722. CETIRIZINE HYDROCHLORIDE\IBUPROFEN\PSEUDOEPHEDRINE HYDROCHLORIDE [Concomitant]
     Active Substance: CETIRIZINE HYDROCHLORIDE\IBUPROFEN\PSEUDOEPHEDRINE HYDROCHLORIDE
     Route: 048
  723. CETIRIZINE HYDROCHLORIDE\IBUPROFEN\PSEUDOEPHEDRINE HYDROCHLORIDE [Concomitant]
     Active Substance: CETIRIZINE HYDROCHLORIDE\IBUPROFEN\PSEUDOEPHEDRINE HYDROCHLORIDE
     Route: 065
  724. DICLOFENAC SODIUM [Concomitant]
     Active Substance: DICLOFENAC SODIUM
     Indication: Rheumatoid arthritis
     Route: 048
  725. DICLOFENAC SODIUM [Concomitant]
     Active Substance: DICLOFENAC SODIUM
     Indication: Product used for unknown indication
     Route: 065
  726. DICLOFENAC SODIUM [Concomitant]
     Active Substance: DICLOFENAC SODIUM
     Route: 065
  727. FOLIC ACID [Concomitant]
     Active Substance: FOLIC ACID
     Indication: Rheumatoid arthritis
     Route: 048
  728. FOLIC ACID [Concomitant]
     Active Substance: FOLIC ACID
     Indication: Product used for unknown indication
     Route: 065
  729. FOLIC ACID [Concomitant]
     Active Substance: FOLIC ACID
     Route: 048
  730. FOLIC ACID [Concomitant]
     Active Substance: FOLIC ACID
     Route: 065
  731. FOLIC ACID [Concomitant]
     Active Substance: FOLIC ACID
     Route: 058
  732. FOLIC ACID [Concomitant]
     Active Substance: FOLIC ACID
     Route: 048
  733. FOLIC ACID [Concomitant]
     Active Substance: FOLIC ACID
     Route: 048
  734. FOLIC ACID [Concomitant]
     Active Substance: FOLIC ACID
     Route: 065
  735. FOLIC ACID [Concomitant]
     Active Substance: FOLIC ACID
     Route: 065
  736. FOLIC ACID [Concomitant]
     Active Substance: FOLIC ACID
     Route: 065
  737. FOLIC ACID [Concomitant]
     Active Substance: FOLIC ACID
     Route: 065
  738. FOLIC ACID [Concomitant]
     Active Substance: FOLIC ACID
     Route: 065
  739. FOLIC ACID [Concomitant]
     Active Substance: FOLIC ACID
     Route: 048
  740. FOLIC ACID [Concomitant]
     Active Substance: FOLIC ACID
     Route: 065
  741. FOLIC ACID [Concomitant]
     Active Substance: FOLIC ACID
     Route: 065
  742. CYANOCOBALAMIN\FOLIC ACID [Concomitant]
     Active Substance: CYANOCOBALAMIN\FOLIC ACID
     Indication: Product used for unknown indication
     Route: 065
  743. FLUMETHASONE [Concomitant]
     Active Substance: FLUMETHASONE
     Indication: Rheumatoid arthritis
     Route: 058
  744. FLUMETHASONE [Concomitant]
     Active Substance: FLUMETHASONE
     Indication: Product used for unknown indication
     Route: 065
  745. GOLIMUMAB [Concomitant]
     Active Substance: GOLIMUMAB
     Indication: Rheumatoid arthritis
     Route: 042
  746. GOLIMUMAB [Concomitant]
     Active Substance: GOLIMUMAB
     Route: 065
  747. GOLIMUMAB [Concomitant]
     Active Substance: GOLIMUMAB
     Route: 058
  748. GOLIMUMAB [Concomitant]
     Active Substance: GOLIMUMAB
     Route: 058
  749. GOLIMUMAB [Concomitant]
     Active Substance: GOLIMUMAB
     Route: 052
  750. GRAMICIDIN\NEOMYCIN SULFATE\NYSTATIN\TRIAMCINOLONE ACETONIDE [Concomitant]
     Active Substance: GRAMICIDIN\NEOMYCIN SULFATE\NYSTATIN\TRIAMCINOLONE ACETONIDE
     Indication: Product used for unknown indication
     Route: 065
  751. GRAMICIDIN\POLYMYXIN B [Concomitant]
     Active Substance: GRAMICIDIN\POLYMYXIN B
     Indication: Product used for unknown indication
     Route: 065
  752. HYDROXYCHLOROQUINE [Concomitant]
     Active Substance: HYDROXYCHLOROQUINE
     Indication: Rheumatoid arthritis
     Route: 048
  753. HYDROXYCHLOROQUINE [Concomitant]
     Active Substance: HYDROXYCHLOROQUINE
     Route: 065
  754. HYDROXYCHLOROQUINE [Concomitant]
     Active Substance: HYDROXYCHLOROQUINE
     Route: 048
  755. HYDROXYCHLOROQUINE [Concomitant]
     Active Substance: HYDROXYCHLOROQUINE
     Route: 048
  756. HYDROXYCHLOROQUINE [Concomitant]
     Active Substance: HYDROXYCHLOROQUINE
     Route: 065
  757. HYDROXYCHLOROQUINE [Concomitant]
     Active Substance: HYDROXYCHLOROQUINE
     Route: 048
  758. HYDROXYCHLOROQUINE [Concomitant]
     Active Substance: HYDROXYCHLOROQUINE
     Route: 065
  759. HYDROXYCHLOROQUINE [Concomitant]
     Active Substance: HYDROXYCHLOROQUINE
     Route: 048
  760. HYDROXYCHLOROQUINE [Concomitant]
     Active Substance: HYDROXYCHLOROQUINE
     Route: 065
  761. HYDROXYCHLOROQUINE [Concomitant]
     Active Substance: HYDROXYCHLOROQUINE
     Route: 005
  762. HYRIMOZ [Concomitant]
     Active Substance: ADALIMUMAB-ADAZ
     Indication: Psoriatic arthropathy
     Route: 065
  763. HYDROCORTISONE PROBUTATE [Concomitant]
     Active Substance: HYDROCORTISONE PROBUTATE
     Indication: Rheumatoid arthritis
     Route: 003
  764. NAPROXEN [Concomitant]
     Active Substance: NAPROXEN
     Indication: Rheumatoid arthritis
     Route: 065
  765. NAPROXEN [Concomitant]
     Active Substance: NAPROXEN
     Route: 065
  766. NAPROXEN [Concomitant]
     Active Substance: NAPROXEN
     Route: 065
  767. NEOMYCIN [Concomitant]
     Active Substance: NEOMYCIN
     Indication: Product used for unknown indication
     Route: 065
  768. OXYCODONE TEREPHTHALATE [Concomitant]
     Active Substance: OXYCODONE TEREPHTHALATE
     Indication: Product used for unknown indication
     Route: 016
  769. OXYCODONE TEREPHTHALATE [Concomitant]
     Active Substance: OXYCODONE TEREPHTHALATE
     Route: 065
  770. OXYCODONE HYDROCHLORIDE [Concomitant]
     Active Substance: OXYCODONE HYDROCHLORIDE
     Indication: Product used for unknown indication
     Route: 065
  771. PSEUDOEPHEDRINE HYDROCHLORIDE\TRIPROLIDINE HYDROCHLORIDE [Concomitant]
     Active Substance: PSEUDOEPHEDRINE HYDROCHLORIDE\TRIPROLIDINE HYDROCHLORIDE
     Indication: Product used for unknown indication
     Route: 065
  772. SULFASALAZINE [Concomitant]
     Active Substance: SULFASALAZINE
     Indication: Rheumatoid arthritis
     Route: 048
  773. SULFASALAZINE [Concomitant]
     Active Substance: SULFASALAZINE
     Route: 048
  774. SULFASALAZINE [Concomitant]
     Active Substance: SULFASALAZINE
     Route: 048
  775. SULFASALAZINE [Concomitant]
     Active Substance: SULFASALAZINE
     Route: 048
  776. SULFASALAZINE [Concomitant]
     Active Substance: SULFASALAZINE
     Route: 048
  777. SULFASALAZINE [Concomitant]
     Active Substance: SULFASALAZINE
     Route: 048
  778. TOCILIZUMAB [Concomitant]
     Active Substance: TOCILIZUMAB
     Indication: Rheumatoid arthritis
     Route: 058
  779. TOCILIZUMAB [Concomitant]
     Active Substance: TOCILIZUMAB
     Route: 065
  780. TOCILIZUMAB [Concomitant]
     Active Substance: TOCILIZUMAB
     Route: 065
  781. VITAMIN C [Concomitant]
     Active Substance: ASCORBIC ACID
     Indication: Product used for unknown indication
     Route: 016
  782. VITAMIN C [Concomitant]
     Active Substance: ASCORBIC ACID
     Route: 065
  783. TOFACITINIB CITRATE [Concomitant]
     Active Substance: TOFACITINIB CITRATE
     Indication: Rheumatoid arthritis
     Route: 058
  784. TOFACITINIB CITRATE [Concomitant]
     Active Substance: TOFACITINIB CITRATE
     Indication: Psoriatic arthropathy
     Route: 048
  785. TOFACITINIB CITRATE [Concomitant]
     Active Substance: TOFACITINIB CITRATE
     Dosage: 5 MILLIGRAM, QWK, 1 EVERY 1 WEEK
     Route: 048
  786. TOFACITINIB CITRATE [Concomitant]
     Active Substance: TOFACITINIB CITRATE
     Route: 065
  787. TOFACITINIB CITRATE [Concomitant]
     Active Substance: TOFACITINIB CITRATE
     Route: 065
  788. TOFACITINIB CITRATE [Concomitant]
     Active Substance: TOFACITINIB CITRATE
     Route: 065
  789. TOFACITINIB [Concomitant]
     Active Substance: TOFACITINIB
     Indication: Product used for unknown indication
     Dosage: 5 MILLIGRAM, QWK, 1 EVERY 1 WEEK
     Route: 048
  790. TOFACITINIB [Concomitant]
     Active Substance: TOFACITINIB
     Route: 048
  791. TRIPROLIDINE HYDROCHLORIDE [Concomitant]
     Active Substance: TRIPROLIDINE HYDROCHLORIDE
     Indication: Product used for unknown indication
     Route: 065
  792. TOPICORT [Concomitant]
     Active Substance: DESOXIMETASONE
     Indication: Rheumatoid arthritis
     Route: 058
  793. TOPICORT [Concomitant]
     Active Substance: DESOXIMETASONE
     Route: 003
  794. TOPICORT [Concomitant]
     Active Substance: DESOXIMETASONE
     Route: 065
  795. TOPICORT [Concomitant]
     Active Substance: DESOXIMETASONE
     Route: 048
  796. VOLTAREN [Concomitant]
     Active Substance: DICLOFENAC SODIUM
     Indication: Product used for unknown indication
     Route: 048
  797. VOLTAREN [Concomitant]
     Active Substance: DICLOFENAC SODIUM
     Route: 048
  798. VOLTAREN [Concomitant]
     Active Substance: DICLOFENAC SODIUM
     Route: 058
  799. VOLTAREN [Concomitant]
     Active Substance: DICLOFENAC SODIUM
     Route: 065
  800. VOLTAREN [Concomitant]
     Active Substance: DICLOFENAC SODIUM
     Route: 047
  801. VITAMIN B12 [Concomitant]
     Active Substance: CYANOCOBALAMIN
     Indication: Product used for unknown indication
     Route: 065
  802. PEPPERMINT [Concomitant]
     Active Substance: PEPPERMINT
     Indication: Product used for unknown indication
     Route: 065
  803. ACETAMINOPHEN\CODEINE PHOSPHATE [Concomitant]
     Active Substance: ACETAMINOPHEN\CODEINE PHOSPHATE
     Indication: Product used for unknown indication
     Route: 065
  804. RISEDRONATE SODIUM [Concomitant]
     Active Substance: RISEDRONATE SODIUM
     Indication: Product used for unknown indication
     Route: 065
  805. SOLU-MEDROL [Concomitant]
     Active Substance: METHYLPREDNISOLONE SODIUM SUCCINATE
     Indication: Product used for unknown indication
     Route: 065
  806. ALFACALCIDOL [Concomitant]
     Active Substance: ALFACALCIDOL
     Indication: Product used for unknown indication
     Route: 065

REACTIONS (169)
  - Abdominal discomfort [Fatal]
  - Abdominal pain upper [Fatal]
  - Adjustment disorder with depressed mood [Fatal]
  - Alopecia [Fatal]
  - Amnesia [Fatal]
  - Anti-cyclic citrullinated peptide antibody positive [Fatal]
  - Anxiety [Fatal]
  - Arthralgia [Fatal]
  - Arthritis [Fatal]
  - Arthropathy [Fatal]
  - Asthenia [Fatal]
  - Asthma [Fatal]
  - Autoimmune disorder [Fatal]
  - Blister [Fatal]
  - Blood cholesterol increased [Fatal]
  - Bone erosion [Fatal]
  - Breast cancer stage III [Fatal]
  - C-reactive protein abnormal [Fatal]
  - C-reactive protein increased [Fatal]
  - Chest pain [Fatal]
  - Colitis ulcerative [Fatal]
  - Condition aggravated [Fatal]
  - Confusional state [Fatal]
  - Contusion [Fatal]
  - Crohn^s disease [Fatal]
  - Decreased appetite [Fatal]
  - Deep vein thrombosis postoperative [Fatal]
  - Delirium [Fatal]
  - Depression [Fatal]
  - Diarrhoea [Fatal]
  - Discomfort [Fatal]
  - Dislocation of vertebra [Fatal]
  - Dizziness [Fatal]
  - Drug hypersensitivity [Fatal]
  - Drug tolerance decreased [Fatal]
  - Dry mouth [Fatal]
  - Dyspnoea [Fatal]
  - Duodenal ulcer perforation [Fatal]
  - Dyspepsia [Fatal]
  - Ear infection [Fatal]
  - Exostosis [Fatal]
  - Facet joint syndrome [Fatal]
  - Fatigue [Fatal]
  - Feeling hot [Fatal]
  - Fibromyalgia [Fatal]
  - Folliculitis [Fatal]
  - Foot deformity [Fatal]
  - Frequent bowel movements [Fatal]
  - Gait disturbance [Fatal]
  - Gait inability [Fatal]
  - Gastrointestinal disorder [Fatal]
  - General physical health deterioration [Fatal]
  - Glossodynia [Fatal]
  - Grip strength [Fatal]
  - Grip strength decreased [Fatal]
  - Hand deformity [Fatal]
  - Headache [Fatal]
  - Helicobacter infection [Fatal]
  - Hepatic cirrhosis [Fatal]
  - Hepatic enzyme increased [Fatal]
  - Hip arthroplasty [Fatal]
  - Hypercholesterolaemia [Fatal]
  - Hypersensitivity [Fatal]
  - Hypertension [Fatal]
  - Hypoaesthesia [Fatal]
  - Ill-defined disorder [Fatal]
  - Impaired healing [Fatal]
  - Infection [Fatal]
  - Inflammation [Fatal]
  - Infusion related reaction [Fatal]
  - Injury [Fatal]
  - Insomnia [Fatal]
  - Irritable bowel syndrome [Fatal]
  - Joint dislocation [Fatal]
  - Joint range of motion decreased [Fatal]
  - Joint stiffness [Fatal]
  - Joint swelling [Fatal]
  - Laboratory test abnormal [Fatal]
  - Laryngitis [Fatal]
  - Lip dry [Fatal]
  - Liver disorder [Fatal]
  - Liver injury [Fatal]
  - Lower limb fracture [Fatal]
  - Lower respiratory tract infection [Fatal]
  - Lung disorder [Fatal]
  - Lupus vulgaris [Fatal]
  - Lupus-like syndrome [Fatal]
  - Malaise [Fatal]
  - Memory impairment [Fatal]
  - Migraine [Fatal]
  - Mobility decreased [Fatal]
  - Muscle injury [Fatal]
  - Muscle spasms [Fatal]
  - Muscular weakness [Fatal]
  - Musculoskeletal pain [Fatal]
  - Musculoskeletal stiffness [Fatal]
  - Nasopharyngitis [Fatal]
  - Nausea [Fatal]
  - Night sweats [Fatal]
  - Obesity [Fatal]
  - Oedema [Fatal]
  - Oedema peripheral [Fatal]
  - Osteoarthritis [Fatal]
  - Osteoporosis [Fatal]
  - Pain [Fatal]
  - Pain in extremity [Fatal]
  - Pancreatitis [Fatal]
  - Paraesthesia [Fatal]
  - Pemphigus [Fatal]
  - Pericarditis [Fatal]
  - Peripheral swelling [Fatal]
  - Peripheral venous disease [Fatal]
  - Pneumonia [Fatal]
  - Porphyria acute [Fatal]
  - Pregnancy [Fatal]
  - Pruritus [Fatal]
  - Psoriatic arthropathy [Fatal]
  - Pulmonary fibrosis [Fatal]
  - Pyrexia [Fatal]
  - Rash [Fatal]
  - Rectal haemorrhage [Fatal]
  - Red blood cell sedimentation rate increased [Fatal]
  - Respiratory disorder [Fatal]
  - Retinitis [Fatal]
  - Rheumatic fever [Fatal]
  - Rheumatoid arthritis [Fatal]
  - Rheumatoid factor positive [Fatal]
  - Road traffic accident [Fatal]
  - Sinusitis [Fatal]
  - Sleep disorder [Fatal]
  - Sleep disorder due to a general medical condition [Fatal]
  - Stomatitis [Fatal]
  - Swelling [Fatal]
  - Swollen joint count increased [Fatal]
  - Synovitis [Fatal]
  - Systemic lupus erythematosus [Fatal]
  - Type 2 diabetes mellitus [Fatal]
  - Urticaria [Fatal]
  - Visual impairment [Fatal]
  - Vomiting [Fatal]
  - Weight decreased [Fatal]
  - Weight increased [Fatal]
  - Wheezing [Fatal]
  - White blood cell count increased [Fatal]
  - Wound [Fatal]
  - Wound infection [Fatal]
  - X-ray abnormal [Fatal]
  - Sciatica [Fatal]
  - Bursitis [Fatal]
  - Knee arthroplasty [Fatal]
  - C-reactive protein [Fatal]
  - Abdominal pain [Fatal]
  - Psoriasis [Fatal]
  - Adverse drug reaction [Fatal]
  - Disability [Fatal]
  - Adverse event [Fatal]
  - Drug intolerance [Fatal]
  - Drug ineffective [Fatal]
  - Treatment failure [Fatal]
  - Intentional product use issue [Recovered/Resolved]
  - Off label use [Recovered/Resolved]
  - Medication error [Recovered/Resolved]
  - Product use in unapproved indication [Recovered/Resolved]
  - Therapeutic product effect decreased [Recovered/Resolved]
  - Therapy non-responder [Recovered/Resolved]
  - Treatment noncompliance [Recovered/Resolved]
  - Maternal exposure during pregnancy [Recovered/Resolved]
  - Contraindicated product administered [Recovered/Resolved]
  - Prescribed overdose [Recovered/Resolved]
